FAERS Safety Report 18152948 (Version 6)
Quarter: 2023Q1

REPORT INFORMATION
  Report Type: Report from Study
  Country: US (occurrence: US)
  Receive Date: 20200814
  Receipt Date: 20230120
  Transmission Date: 20230418
  Serious: Yes (Other)
  Sender: FDA-Public Use
  Company Number: US-JAZZ-2020-US-010211

PATIENT
  Age: 21 Year
  Sex: Female

DRUGS (819)
  1. XYREM [Suspect]
     Active Substance: SODIUM OXYBATE
     Indication: Narcolepsy
     Dosage: DOSE ADJUSTMENT
     Route: 048
     Dates: start: 201810, end: 201811
  2. XYREM [Suspect]
     Active Substance: SODIUM OXYBATE
     Indication: Cataplexy
     Dosage: 4.5 GRAM, BID
     Route: 048
     Dates: start: 201811
  3. XYREM [Suspect]
     Active Substance: SODIUM OXYBATE
     Indication: Somnolence
  4. PROPRANOLOL [Suspect]
     Active Substance: PROPRANOLOL HYDROCHLORIDE
     Indication: Product used for unknown indication
     Dosage: UNK
     Dates: end: 202008
  5. PROPRANOLOL [Suspect]
     Active Substance: PROPRANOLOL HYDROCHLORIDE
     Dosage: UNK
     Dates: end: 202008
  6. PROPRANOLOL [Suspect]
     Active Substance: PROPRANOLOL HYDROCHLORIDE
     Dosage: UNK
     Dates: end: 202008
  7. ARMODAFINIL [Suspect]
     Active Substance: ARMODAFINIL
     Indication: Product used for unknown indication
     Dosage: UNKNOWN DOSE AND FREQUENCY
  8. ARMODAFINIL [Suspect]
     Active Substance: ARMODAFINIL
     Dosage: UNKNOWN DOSE AND FREQUENCY
  9. ARMODAFINIL [Suspect]
     Active Substance: ARMODAFINIL
     Dosage: UNKNOWN DOSE AND FREQUENCY
  10. ARMODAFINIL [Suspect]
     Active Substance: ARMODAFINIL
     Dosage: UNKNOWN DOSE AND FREQUENCY
  11. ARMODAFINIL [Suspect]
     Active Substance: ARMODAFINIL
     Dosage: UNKNOWN DOSE AND FREQUENCY
  12. ARMODAFINIL [Suspect]
     Active Substance: ARMODAFINIL
     Dosage: UNKNOWN DOSE AND FREQUENCY
  13. ARMODAFINIL [Suspect]
     Active Substance: ARMODAFINIL
     Dosage: UNKNOWN DOSE AND FREQUENCY
  14. ARMODAFINIL [Suspect]
     Active Substance: ARMODAFINIL
     Dosage: UNKNOWN DOSE AND FREQUENCY
  15. ARMODAFINIL [Suspect]
     Active Substance: ARMODAFINIL
     Dosage: UNKNOWN DOSE AND FREQUENCY
  16. ARMODAFINIL [Suspect]
     Active Substance: ARMODAFINIL
     Dosage: UNKNOWN DOSE AND FREQUENCY
  17. ARMODAFINIL [Suspect]
     Active Substance: ARMODAFINIL
     Dosage: UNKNOWN DOSE AND FREQUENCY
  18. ARMODAFINIL [Suspect]
     Active Substance: ARMODAFINIL
     Dosage: UNKNOWN DOSE AND FREQUENCY
  19. ARMODAFINIL [Suspect]
     Active Substance: ARMODAFINIL
     Dosage: UNKNOWN DOSE AND FREQUENCY
  20. ARMODAFINIL [Suspect]
     Active Substance: ARMODAFINIL
     Dosage: UNKNOWN DOSE AND FREQUENCY
  21. ARMODAFINIL [Suspect]
     Active Substance: ARMODAFINIL
     Dosage: UNKNOWN DOSE AND FREQUENCY
  22. ARMODAFINIL [Suspect]
     Active Substance: ARMODAFINIL
     Dosage: UNKNOWN DOSE AND FREQUENCY
  23. ARMODAFINIL [Suspect]
     Active Substance: ARMODAFINIL
     Dosage: UNKNOWN DOSE AND FREQUENCY
  24. ARMODAFINIL [Suspect]
     Active Substance: ARMODAFINIL
     Dosage: UNKNOWN DOSE AND FREQUENCY
  25. ARMODAFINIL [Suspect]
     Active Substance: ARMODAFINIL
     Dosage: UNKNOWN DOSE AND FREQUENCY
  26. ARMODAFINIL [Suspect]
     Active Substance: ARMODAFINIL
     Dosage: UNKNOWN DOSE AND FREQUENCY
  27. ARMODAFINIL [Suspect]
     Active Substance: ARMODAFINIL
     Dosage: UNKNOWN DOSE AND FREQUENCY
  28. ARMODAFINIL [Suspect]
     Active Substance: ARMODAFINIL
     Dosage: UNKNOWN DOSE AND FREQUENCY
  29. ARMODAFINIL [Suspect]
     Active Substance: ARMODAFINIL
     Dosage: UNKNOWN DOSE AND FREQUENCY
  30. ARMODAFINIL [Suspect]
     Active Substance: ARMODAFINIL
     Dosage: UNKNOWN DOSE AND FREQUENCY
  31. ARMODAFINIL [Suspect]
     Active Substance: ARMODAFINIL
     Dosage: UNKNOWN DOSE AND FREQUENCY
  32. ARMODAFINIL [Suspect]
     Active Substance: ARMODAFINIL
     Dosage: UNKNOWN DOSE AND FREQUENCY
  33. ARMODAFINIL [Suspect]
     Active Substance: ARMODAFINIL
     Dosage: UNKNOWN DOSE AND FREQUENCY
  34. ARMODAFINIL [Suspect]
     Active Substance: ARMODAFINIL
     Dosage: UNKNOWN DOSE AND FREQUENCY
  35. ARMODAFINIL [Suspect]
     Active Substance: ARMODAFINIL
     Dosage: UNKNOWN DOSE AND FREQUENCY
  36. ARMODAFINIL [Suspect]
     Active Substance: ARMODAFINIL
     Dosage: UNKNOWN DOSE AND FREQUENCY
  37. WELLBUTRIN [Suspect]
     Active Substance: BUPROPION HYDROCHLORIDE
     Indication: Product used for unknown indication
     Dosage: UNKNOWN DOSE AND FREQUENCY
     Route: 065
  38. WELLBUTRIN [Suspect]
     Active Substance: BUPROPION HYDROCHLORIDE
     Dosage: UNKNOWN DOSE AND FREQUENCY
     Route: 065
  39. WELLBUTRIN [Suspect]
     Active Substance: BUPROPION HYDROCHLORIDE
     Dosage: UNKNOWN DOSE AND FREQUENCY
     Route: 065
  40. WELLBUTRIN [Suspect]
     Active Substance: BUPROPION HYDROCHLORIDE
     Dosage: UNKNOWN DOSE AND FREQUENCY
     Route: 065
  41. WELLBUTRIN [Suspect]
     Active Substance: BUPROPION HYDROCHLORIDE
     Dosage: UNKNOWN DOSE AND FREQUENCY
     Route: 065
  42. WELLBUTRIN [Suspect]
     Active Substance: BUPROPION HYDROCHLORIDE
     Dosage: UNKNOWN DOSE AND FREQUENCY
     Route: 065
  43. WELLBUTRIN [Suspect]
     Active Substance: BUPROPION HYDROCHLORIDE
     Dosage: UNKNOWN DOSE AND FREQUENCY
     Route: 065
  44. WELLBUTRIN [Suspect]
     Active Substance: BUPROPION HYDROCHLORIDE
     Dosage: UNKNOWN DOSE AND FREQUENCY
     Route: 065
  45. WELLBUTRIN [Suspect]
     Active Substance: BUPROPION HYDROCHLORIDE
     Dosage: UNKNOWN DOSE AND FREQUENCY
     Route: 065
  46. WELLBUTRIN [Suspect]
     Active Substance: BUPROPION HYDROCHLORIDE
     Dosage: UNKNOWN DOSE AND FREQUENCY
     Route: 065
  47. WELLBUTRIN [Suspect]
     Active Substance: BUPROPION HYDROCHLORIDE
     Dosage: UNKNOWN DOSE AND FREQUENCY
     Route: 065
  48. WELLBUTRIN [Suspect]
     Active Substance: BUPROPION HYDROCHLORIDE
     Dosage: UNKNOWN DOSE AND FREQUENCY
     Route: 065
  49. WELLBUTRIN [Suspect]
     Active Substance: BUPROPION HYDROCHLORIDE
     Dosage: UNKNOWN DOSE AND FREQUENCY
     Route: 065
  50. WELLBUTRIN [Suspect]
     Active Substance: BUPROPION HYDROCHLORIDE
     Dosage: UNKNOWN DOSE AND FREQUENCY
     Route: 065
  51. WELLBUTRIN [Suspect]
     Active Substance: BUPROPION HYDROCHLORIDE
     Dosage: UNKNOWN DOSE AND FREQUENCY
     Route: 065
  52. WELLBUTRIN [Suspect]
     Active Substance: BUPROPION HYDROCHLORIDE
     Dosage: UNKNOWN DOSE AND FREQUENCY
     Route: 065
  53. WELLBUTRIN [Suspect]
     Active Substance: BUPROPION HYDROCHLORIDE
     Dosage: UNKNOWN DOSE AND FREQUENCY
     Route: 065
  54. WELLBUTRIN [Suspect]
     Active Substance: BUPROPION HYDROCHLORIDE
     Dosage: UNKNOWN DOSE AND FREQUENCY
     Route: 065
  55. WELLBUTRIN [Suspect]
     Active Substance: BUPROPION HYDROCHLORIDE
     Dosage: UNKNOWN DOSE AND FREQUENCY
     Route: 065
  56. WELLBUTRIN [Suspect]
     Active Substance: BUPROPION HYDROCHLORIDE
     Dosage: UNKNOWN DOSE AND FREQUENCY
     Route: 065
  57. WELLBUTRIN [Suspect]
     Active Substance: BUPROPION HYDROCHLORIDE
     Dosage: UNKNOWN DOSE AND FREQUENCY
     Route: 065
  58. WELLBUTRIN [Suspect]
     Active Substance: BUPROPION HYDROCHLORIDE
     Dosage: UNKNOWN DOSE AND FREQUENCY
     Route: 065
  59. WELLBUTRIN [Suspect]
     Active Substance: BUPROPION HYDROCHLORIDE
     Dosage: UNKNOWN DOSE AND FREQUENCY
     Route: 065
  60. WELLBUTRIN [Suspect]
     Active Substance: BUPROPION HYDROCHLORIDE
     Dosage: UNKNOWN DOSE AND FREQUENCY
     Route: 065
  61. WELLBUTRIN [Suspect]
     Active Substance: BUPROPION HYDROCHLORIDE
     Dosage: UNKNOWN DOSE AND FREQUENCY
     Route: 065
  62. WELLBUTRIN [Suspect]
     Active Substance: BUPROPION HYDROCHLORIDE
     Dosage: UNKNOWN DOSE AND FREQUENCY
     Route: 065
  63. WELLBUTRIN [Suspect]
     Active Substance: BUPROPION HYDROCHLORIDE
     Dosage: UNKNOWN DOSE AND FREQUENCY
     Route: 065
  64. WELLBUTRIN [Suspect]
     Active Substance: BUPROPION HYDROCHLORIDE
     Dosage: UNKNOWN DOSE AND FREQUENCY
     Route: 065
  65. WELLBUTRIN [Suspect]
     Active Substance: BUPROPION HYDROCHLORIDE
     Dosage: UNKNOWN DOSE AND FREQUENCY
     Route: 065
  66. WELLBUTRIN [Suspect]
     Active Substance: BUPROPION HYDROCHLORIDE
     Dosage: UNKNOWN DOSE AND FREQUENCY
     Route: 065
  67. ALLEGRA D-12 HOUR [Concomitant]
     Active Substance: FEXOFENADINE HYDROCHLORIDE\PSEUDOEPHEDRINE HYDROCHLORIDE
     Indication: Product used for unknown indication
     Dosage: UNK
     Dates: start: 201909, end: 202008
  68. ADDERALL [Concomitant]
     Active Substance: AMPHETAMINE ASPARTATE\AMPHETAMINE SULFATE\DEXTROAMPHETAMINE SACCHARATE\DEXTROAMPHETAMINE SULFATE
     Indication: Product used for unknown indication
     Dosage: UNK
     Dates: end: 202008
  69. ADDERALL [Concomitant]
     Active Substance: AMPHETAMINE ASPARTATE\AMPHETAMINE SULFATE\DEXTROAMPHETAMINE SACCHARATE\DEXTROAMPHETAMINE SULFATE
     Dosage: UNK
     Dates: end: 202008
  70. ADDERALL [Concomitant]
     Active Substance: AMPHETAMINE ASPARTATE\AMPHETAMINE SULFATE\DEXTROAMPHETAMINE SACCHARATE\DEXTROAMPHETAMINE SULFATE
     Dosage: UNK
     Dates: end: 202008
  71. ADDERALL [Concomitant]
     Active Substance: AMPHETAMINE ASPARTATE\AMPHETAMINE SULFATE\DEXTROAMPHETAMINE SACCHARATE\DEXTROAMPHETAMINE SULFATE
     Dosage: UNK
     Dates: end: 202008
  72. ADDERALL [Concomitant]
     Active Substance: AMPHETAMINE ASPARTATE\AMPHETAMINE SULFATE\DEXTROAMPHETAMINE SACCHARATE\DEXTROAMPHETAMINE SULFATE
     Dosage: UNK
     Dates: end: 202008
  73. ADDERALL [Concomitant]
     Active Substance: AMPHETAMINE ASPARTATE\AMPHETAMINE SULFATE\DEXTROAMPHETAMINE SACCHARATE\DEXTROAMPHETAMINE SULFATE
     Dosage: UNK
     Dates: end: 202008
  74. ADDERALL [Concomitant]
     Active Substance: AMPHETAMINE ASPARTATE\AMPHETAMINE SULFATE\DEXTROAMPHETAMINE SACCHARATE\DEXTROAMPHETAMINE SULFATE
     Dosage: UNK
     Dates: end: 202008
  75. ADDERALL [Concomitant]
     Active Substance: AMPHETAMINE ASPARTATE\AMPHETAMINE SULFATE\DEXTROAMPHETAMINE SACCHARATE\DEXTROAMPHETAMINE SULFATE
     Dosage: UNK
     Dates: end: 202008
  76. ADDERALL [Concomitant]
     Active Substance: AMPHETAMINE ASPARTATE\AMPHETAMINE SULFATE\DEXTROAMPHETAMINE SACCHARATE\DEXTROAMPHETAMINE SULFATE
     Dosage: UNK
     Dates: end: 202008
  77. ADDERALL [Concomitant]
     Active Substance: AMPHETAMINE ASPARTATE\AMPHETAMINE SULFATE\DEXTROAMPHETAMINE SACCHARATE\DEXTROAMPHETAMINE SULFATE
     Dosage: UNK
     Dates: end: 202008
  78. ADDERALL [Concomitant]
     Active Substance: AMPHETAMINE ASPARTATE\AMPHETAMINE SULFATE\DEXTROAMPHETAMINE SACCHARATE\DEXTROAMPHETAMINE SULFATE
     Dosage: UNK
     Dates: end: 202008
  79. ADDERALL [Concomitant]
     Active Substance: AMPHETAMINE ASPARTATE\AMPHETAMINE SULFATE\DEXTROAMPHETAMINE SACCHARATE\DEXTROAMPHETAMINE SULFATE
     Dosage: UNK
     Dates: end: 202008
  80. ADDERALL [Concomitant]
     Active Substance: AMPHETAMINE ASPARTATE\AMPHETAMINE SULFATE\DEXTROAMPHETAMINE SACCHARATE\DEXTROAMPHETAMINE SULFATE
     Dosage: UNK
     Dates: end: 202008
  81. ADDERALL [Concomitant]
     Active Substance: AMPHETAMINE ASPARTATE\AMPHETAMINE SULFATE\DEXTROAMPHETAMINE SACCHARATE\DEXTROAMPHETAMINE SULFATE
     Dosage: UNK
     Dates: end: 202008
  82. ADDERALL [Concomitant]
     Active Substance: AMPHETAMINE ASPARTATE\AMPHETAMINE SULFATE\DEXTROAMPHETAMINE SACCHARATE\DEXTROAMPHETAMINE SULFATE
     Dosage: UNK
     Dates: end: 202008
  83. ADDERALL [Concomitant]
     Active Substance: AMPHETAMINE ASPARTATE\AMPHETAMINE SULFATE\DEXTROAMPHETAMINE SACCHARATE\DEXTROAMPHETAMINE SULFATE
     Dosage: UNK
     Dates: end: 202008
  84. ADDERALL [Concomitant]
     Active Substance: AMPHETAMINE ASPARTATE\AMPHETAMINE SULFATE\DEXTROAMPHETAMINE SACCHARATE\DEXTROAMPHETAMINE SULFATE
     Dosage: UNK
     Dates: end: 202008
  85. ADDERALL [Concomitant]
     Active Substance: AMPHETAMINE ASPARTATE\AMPHETAMINE SULFATE\DEXTROAMPHETAMINE SACCHARATE\DEXTROAMPHETAMINE SULFATE
     Dosage: UNK
     Dates: end: 202008
  86. ADDERALL [Concomitant]
     Active Substance: AMPHETAMINE ASPARTATE\AMPHETAMINE SULFATE\DEXTROAMPHETAMINE SACCHARATE\DEXTROAMPHETAMINE SULFATE
     Dosage: UNK
     Dates: end: 202008
  87. ADDERALL [Concomitant]
     Active Substance: AMPHETAMINE ASPARTATE\AMPHETAMINE SULFATE\DEXTROAMPHETAMINE SACCHARATE\DEXTROAMPHETAMINE SULFATE
     Dosage: UNK
     Dates: end: 202008
  88. ADDERALL [Concomitant]
     Active Substance: AMPHETAMINE ASPARTATE\AMPHETAMINE SULFATE\DEXTROAMPHETAMINE SACCHARATE\DEXTROAMPHETAMINE SULFATE
     Dosage: UNK
     Dates: end: 202008
  89. ADDERALL [Concomitant]
     Active Substance: AMPHETAMINE ASPARTATE\AMPHETAMINE SULFATE\DEXTROAMPHETAMINE SACCHARATE\DEXTROAMPHETAMINE SULFATE
     Dosage: UNK
     Dates: end: 202008
  90. ADDERALL [Concomitant]
     Active Substance: AMPHETAMINE ASPARTATE\AMPHETAMINE SULFATE\DEXTROAMPHETAMINE SACCHARATE\DEXTROAMPHETAMINE SULFATE
     Dosage: UNK
     Dates: end: 202008
  91. ADDERALL [Concomitant]
     Active Substance: AMPHETAMINE ASPARTATE\AMPHETAMINE SULFATE\DEXTROAMPHETAMINE SACCHARATE\DEXTROAMPHETAMINE SULFATE
     Dosage: UNK
     Dates: end: 202008
  92. ADDERALL [Concomitant]
     Active Substance: AMPHETAMINE ASPARTATE\AMPHETAMINE SULFATE\DEXTROAMPHETAMINE SACCHARATE\DEXTROAMPHETAMINE SULFATE
     Dosage: UNK
     Dates: end: 202008
  93. ADDERALL [Concomitant]
     Active Substance: AMPHETAMINE ASPARTATE\AMPHETAMINE SULFATE\DEXTROAMPHETAMINE SACCHARATE\DEXTROAMPHETAMINE SULFATE
     Dosage: UNK
     Dates: end: 202008
  94. ADDERALL [Concomitant]
     Active Substance: AMPHETAMINE ASPARTATE\AMPHETAMINE SULFATE\DEXTROAMPHETAMINE SACCHARATE\DEXTROAMPHETAMINE SULFATE
     Dosage: UNK
     Dates: end: 202008
  95. ADDERALL [Concomitant]
     Active Substance: AMPHETAMINE ASPARTATE\AMPHETAMINE SULFATE\DEXTROAMPHETAMINE SACCHARATE\DEXTROAMPHETAMINE SULFATE
     Dosage: UNK
     Dates: end: 202008
  96. ADDERALL [Concomitant]
     Active Substance: AMPHETAMINE ASPARTATE\AMPHETAMINE SULFATE\DEXTROAMPHETAMINE SACCHARATE\DEXTROAMPHETAMINE SULFATE
     Dosage: UNK
     Dates: end: 202008
  97. ADDERALL [Concomitant]
     Active Substance: AMPHETAMINE ASPARTATE\AMPHETAMINE SULFATE\DEXTROAMPHETAMINE SACCHARATE\DEXTROAMPHETAMINE SULFATE
     Dosage: UNK
     Dates: end: 202008
  98. ALPRAZOLAM [Concomitant]
     Active Substance: ALPRAZOLAM
     Indication: Product used for unknown indication
     Dosage: 1 MG + 0.5 MG
     Dates: start: 20210803
  99. ALPRAZOLAM [Concomitant]
     Active Substance: ALPRAZOLAM
     Dosage: 0.5 MG
     Dates: start: 20220817
  100. BERBERINE [Concomitant]
     Active Substance: BERBERINE
     Indication: Product used for unknown indication
  101. BERBERINE [Concomitant]
     Active Substance: BERBERINE
  102. BERBERINE [Concomitant]
     Active Substance: BERBERINE
  103. BERBERINE [Concomitant]
     Active Substance: BERBERINE
  104. BERBERINE [Concomitant]
     Active Substance: BERBERINE
  105. BERBERINE [Concomitant]
     Active Substance: BERBERINE
  106. BERBERINE [Concomitant]
     Active Substance: BERBERINE
  107. BERBERINE [Concomitant]
     Active Substance: BERBERINE
  108. BERBERINE [Concomitant]
     Active Substance: BERBERINE
  109. BERBERINE [Concomitant]
     Active Substance: BERBERINE
  110. BERBERINE [Concomitant]
     Active Substance: BERBERINE
  111. BERBERINE [Concomitant]
     Active Substance: BERBERINE
  112. BERBERINE [Concomitant]
     Active Substance: BERBERINE
  113. BERBERINE [Concomitant]
     Active Substance: BERBERINE
  114. BERBERINE [Concomitant]
     Active Substance: BERBERINE
  115. BERBERINE [Concomitant]
     Active Substance: BERBERINE
  116. BERBERINE [Concomitant]
     Active Substance: BERBERINE
  117. BERBERINE [Concomitant]
     Active Substance: BERBERINE
  118. BERBERINE [Concomitant]
     Active Substance: BERBERINE
  119. BERBERINE [Concomitant]
     Active Substance: BERBERINE
  120. BERBERINE [Concomitant]
     Active Substance: BERBERINE
  121. BERBERINE [Concomitant]
     Active Substance: BERBERINE
  122. BERBERINE [Concomitant]
     Active Substance: BERBERINE
  123. BERBERINE [Concomitant]
     Active Substance: BERBERINE
  124. BERBERINE [Concomitant]
     Active Substance: BERBERINE
  125. BERBERINE [Concomitant]
     Active Substance: BERBERINE
     Dosage: UNK
  126. BERBERINE [Concomitant]
     Active Substance: BERBERINE
     Dosage: UNK
  127. BERBERINE [Concomitant]
     Active Substance: BERBERINE
  128. BERBERINE [Concomitant]
     Active Substance: BERBERINE
     Dosage: UNK
  129. BERBERINE [Concomitant]
     Active Substance: BERBERINE
     Dosage: UNK
  130. CANNABIDIOL\HERBALS [Concomitant]
     Active Substance: CANNABIDIOL\HERBALS
     Indication: Product used for unknown indication
  131. CANNABIDIOL\HERBALS [Concomitant]
     Active Substance: CANNABIDIOL\HERBALS
  132. CANNABIDIOL\HERBALS [Concomitant]
     Active Substance: CANNABIDIOL\HERBALS
  133. CANNABIDIOL\HERBALS [Concomitant]
     Active Substance: CANNABIDIOL\HERBALS
  134. CANNABIDIOL\HERBALS [Concomitant]
     Active Substance: CANNABIDIOL\HERBALS
  135. CANNABIDIOL\HERBALS [Concomitant]
     Active Substance: CANNABIDIOL\HERBALS
  136. CANNABIDIOL\HERBALS [Concomitant]
     Active Substance: CANNABIDIOL\HERBALS
  137. CANNABIDIOL\HERBALS [Concomitant]
     Active Substance: CANNABIDIOL\HERBALS
  138. CANNABIDIOL\HERBALS [Concomitant]
     Active Substance: CANNABIDIOL\HERBALS
  139. CANNABIDIOL\HERBALS [Concomitant]
     Active Substance: CANNABIDIOL\HERBALS
  140. CANNABIDIOL\HERBALS [Concomitant]
     Active Substance: CANNABIDIOL\HERBALS
  141. CANNABIDIOL\HERBALS [Concomitant]
     Active Substance: CANNABIDIOL\HERBALS
  142. CANNABIDIOL\HERBALS [Concomitant]
     Active Substance: CANNABIDIOL\HERBALS
  143. CANNABIDIOL\HERBALS [Concomitant]
     Active Substance: CANNABIDIOL\HERBALS
  144. CANNABIDIOL\HERBALS [Concomitant]
     Active Substance: CANNABIDIOL\HERBALS
  145. CANNABIDIOL\HERBALS [Concomitant]
     Active Substance: CANNABIDIOL\HERBALS
  146. CANNABIDIOL\HERBALS [Concomitant]
     Active Substance: CANNABIDIOL\HERBALS
  147. CANNABIDIOL\HERBALS [Concomitant]
     Active Substance: CANNABIDIOL\HERBALS
  148. CANNABIDIOL\HERBALS [Concomitant]
     Active Substance: CANNABIDIOL\HERBALS
  149. CANNABIDIOL\HERBALS [Concomitant]
     Active Substance: CANNABIDIOL\HERBALS
  150. CANNABIDIOL\HERBALS [Concomitant]
     Active Substance: CANNABIDIOL\HERBALS
  151. CANNABIDIOL\HERBALS [Concomitant]
     Active Substance: CANNABIDIOL\HERBALS
  152. CANNABIDIOL\HERBALS [Concomitant]
     Active Substance: CANNABIDIOL\HERBALS
  153. CANNABIDIOL\HERBALS [Concomitant]
     Active Substance: CANNABIDIOL\HERBALS
  154. CANNABIDIOL\HERBALS [Concomitant]
     Active Substance: CANNABIDIOL\HERBALS
  155. CANNABIDIOL\HERBALS [Concomitant]
     Active Substance: CANNABIDIOL\HERBALS
  156. CANNABIDIOL\HERBALS [Concomitant]
     Active Substance: CANNABIDIOL\HERBALS
  157. CANNABIDIOL\HERBALS [Concomitant]
     Active Substance: CANNABIDIOL\HERBALS
  158. CANNABIDIOL\HERBALS [Concomitant]
     Active Substance: CANNABIDIOL\HERBALS
  159. CANNABIDIOL\HERBALS [Concomitant]
     Active Substance: CANNABIDIOL\HERBALS
  160. CHLORPHENIRAMINE [Concomitant]
     Active Substance: CHLORPHENIRAMINE
     Indication: Product used for unknown indication
     Dosage: UNK
     Dates: end: 202008
  161. CHLORPHENIRAMINE [Concomitant]
     Active Substance: CHLORPHENIRAMINE
     Dosage: UNK
     Dates: end: 202008
  162. CHLORPHENIRAMINE [Concomitant]
     Active Substance: CHLORPHENIRAMINE
     Dosage: UNK
     Dates: end: 202008
  163. CHLORPHENIRAMINE [Concomitant]
     Active Substance: CHLORPHENIRAMINE
     Dosage: UNK
     Dates: end: 202008
  164. CHLORPHENIRAMINE [Concomitant]
     Active Substance: CHLORPHENIRAMINE
     Dosage: UNK
     Dates: end: 202008
  165. CHLORPHENIRAMINE [Concomitant]
     Active Substance: CHLORPHENIRAMINE
     Dosage: UNK
     Dates: end: 202008
  166. CHLORPHENIRAMINE [Concomitant]
     Active Substance: CHLORPHENIRAMINE
     Dosage: UNK
     Dates: end: 202008
  167. CHLORPHENIRAMINE [Concomitant]
     Active Substance: CHLORPHENIRAMINE
     Dosage: UNK
     Dates: end: 202008
  168. CHLORPHENIRAMINE [Concomitant]
     Active Substance: CHLORPHENIRAMINE
     Dosage: UNK
     Dates: end: 202008
  169. CHLORPHENIRAMINE [Concomitant]
     Active Substance: CHLORPHENIRAMINE
     Dosage: UNK
     Dates: end: 202008
  170. CHLORPHENIRAMINE [Concomitant]
     Active Substance: CHLORPHENIRAMINE
     Dosage: UNK
     Dates: end: 202008
  171. CHLORPHENIRAMINE [Concomitant]
     Active Substance: CHLORPHENIRAMINE
     Dosage: UNK
     Dates: end: 202008
  172. CHLORPHENIRAMINE [Concomitant]
     Active Substance: CHLORPHENIRAMINE
     Dosage: UNK
     Dates: end: 202008
  173. CHLORPHENIRAMINE [Concomitant]
     Active Substance: CHLORPHENIRAMINE
     Dosage: UNK
     Dates: end: 202008
  174. CHLORPHENIRAMINE [Concomitant]
     Active Substance: CHLORPHENIRAMINE
     Dosage: UNK
     Dates: end: 202008
  175. CHLORPHENIRAMINE [Concomitant]
     Active Substance: CHLORPHENIRAMINE
     Dosage: UNK
     Dates: end: 202008
  176. CHLORPHENIRAMINE [Concomitant]
     Active Substance: CHLORPHENIRAMINE
     Dosage: UNK
     Dates: end: 202008
  177. CHLORPHENIRAMINE [Concomitant]
     Active Substance: CHLORPHENIRAMINE
     Dosage: UNK
     Dates: end: 202008
  178. CHLORPHENIRAMINE [Concomitant]
     Active Substance: CHLORPHENIRAMINE
     Dosage: UNK
     Dates: end: 202008
  179. CHLORPHENIRAMINE [Concomitant]
     Active Substance: CHLORPHENIRAMINE
     Dosage: UNK
     Dates: end: 202008
  180. CHLORPHENIRAMINE [Concomitant]
     Active Substance: CHLORPHENIRAMINE
     Dosage: UNK
     Dates: end: 202008
  181. CHLORPHENIRAMINE [Concomitant]
     Active Substance: CHLORPHENIRAMINE
     Dosage: UNK
     Dates: end: 202008
  182. CHLORPHENIRAMINE [Concomitant]
     Active Substance: CHLORPHENIRAMINE
     Dosage: UNK
     Dates: end: 202008
  183. CHLORPHENIRAMINE [Concomitant]
     Active Substance: CHLORPHENIRAMINE
     Dosage: UNK
     Dates: end: 202008
  184. CHLORPHENIRAMINE [Concomitant]
     Active Substance: CHLORPHENIRAMINE
     Dosage: UNK
     Dates: end: 202008
  185. CHLORPHENIRAMINE [Concomitant]
     Active Substance: CHLORPHENIRAMINE
     Dosage: UNK
     Dates: end: 202008
  186. CHLORPHENIRAMINE [Concomitant]
     Active Substance: CHLORPHENIRAMINE
     Dosage: UNK
     Dates: end: 202008
  187. CHLORPHENIRAMINE [Concomitant]
     Active Substance: CHLORPHENIRAMINE
     Dosage: UNK
     Dates: end: 202008
  188. CHLORPHENIRAMINE [Concomitant]
     Active Substance: CHLORPHENIRAMINE
     Dosage: UNK
     Dates: end: 202008
  189. CHLORPHENIRAMINE [Concomitant]
     Active Substance: CHLORPHENIRAMINE
     Dosage: UNK
     Dates: end: 202008
  190. CLOMIPRAMINE [Concomitant]
     Active Substance: CLOMIPRAMINE
     Indication: Product used for unknown indication
     Dosage: 25 MG
     Dates: end: 202008
  191. CLOMIPRAMINE [Concomitant]
     Active Substance: CLOMIPRAMINE
     Dosage: 50 MG
     Dates: end: 202008
  192. CLOMIPRAMINE [Concomitant]
     Active Substance: CLOMIPRAMINE
     Dosage: 25 MG
     Dates: end: 202008
  193. CLOMIPRAMINE [Concomitant]
     Active Substance: CLOMIPRAMINE
     Dosage: 50 MG
     Dates: end: 202008
  194. CLOMIPRAMINE [Concomitant]
     Active Substance: CLOMIPRAMINE
     Dosage: 25 MG
     Dates: end: 202008
  195. CLOMIPRAMINE [Concomitant]
     Active Substance: CLOMIPRAMINE
     Dosage: 50 MG
     Dates: end: 202008
  196. CLOMIPRAMINE [Concomitant]
     Active Substance: CLOMIPRAMINE
     Dosage: 25 MG
     Dates: end: 202008
  197. CLOMIPRAMINE [Concomitant]
     Active Substance: CLOMIPRAMINE
     Dosage: 50 MG
     Dates: end: 202008
  198. CLOMIPRAMINE [Concomitant]
     Active Substance: CLOMIPRAMINE
     Dosage: 25 MG
     Dates: end: 202008
  199. CLOMIPRAMINE [Concomitant]
     Active Substance: CLOMIPRAMINE
     Dosage: 50 MG
     Dates: end: 202008
  200. CLOMIPRAMINE [Concomitant]
     Active Substance: CLOMIPRAMINE
     Dosage: 25 MG
     Dates: end: 202008
  201. CLOMIPRAMINE [Concomitant]
     Active Substance: CLOMIPRAMINE
     Dosage: 50 MG
     Dates: end: 202008
  202. CLOMIPRAMINE [Concomitant]
     Active Substance: CLOMIPRAMINE
     Dosage: 25 MG
     Dates: end: 202008
  203. CLOMIPRAMINE [Concomitant]
     Active Substance: CLOMIPRAMINE
     Dosage: 50 MG
     Dates: end: 202008
  204. CLOMIPRAMINE [Concomitant]
     Active Substance: CLOMIPRAMINE
     Dosage: 25 MG
     Dates: end: 202008
  205. CLOMIPRAMINE [Concomitant]
     Active Substance: CLOMIPRAMINE
     Dosage: 50 MG
     Dates: end: 202008
  206. CLOMIPRAMINE [Concomitant]
     Active Substance: CLOMIPRAMINE
     Dosage: 25 MG
     Dates: end: 202008
  207. CLOMIPRAMINE [Concomitant]
     Active Substance: CLOMIPRAMINE
     Dosage: 50 MG
     Dates: end: 202008
  208. CLOMIPRAMINE [Concomitant]
     Active Substance: CLOMIPRAMINE
     Dosage: 25 MG
     Dates: end: 202008
  209. CLOMIPRAMINE [Concomitant]
     Active Substance: CLOMIPRAMINE
     Dosage: 50 MG
     Dates: end: 202008
  210. CLOMIPRAMINE [Concomitant]
     Active Substance: CLOMIPRAMINE
     Dosage: 25 MG
     Dates: end: 202008
  211. CLOMIPRAMINE [Concomitant]
     Active Substance: CLOMIPRAMINE
     Dosage: 50 MG
     Dates: end: 202008
  212. CLOMIPRAMINE [Concomitant]
     Active Substance: CLOMIPRAMINE
     Dosage: 25 MG
     Dates: end: 202008
  213. CLOMIPRAMINE [Concomitant]
     Active Substance: CLOMIPRAMINE
     Dosage: 50 MG
     Dates: end: 202008
  214. CLOMIPRAMINE [Concomitant]
     Active Substance: CLOMIPRAMINE
     Dosage: 25 MG
     Dates: end: 202008
  215. CLOMIPRAMINE [Concomitant]
     Active Substance: CLOMIPRAMINE
     Dosage: 50 MG
     Dates: end: 202008
  216. CLOMIPRAMINE [Concomitant]
     Active Substance: CLOMIPRAMINE
     Dosage: 25 MG
     Dates: end: 202008
  217. CLOMIPRAMINE [Concomitant]
     Active Substance: CLOMIPRAMINE
     Dosage: 50 MG
     Dates: end: 202008
  218. CLOMIPRAMINE [Concomitant]
     Active Substance: CLOMIPRAMINE
     Dosage: 25 MG
     Dates: end: 202008
  219. CLOMIPRAMINE [Concomitant]
     Active Substance: CLOMIPRAMINE
     Dosage: 50 MG
     Dates: end: 202008
  220. CLOMIPRAMINE [Concomitant]
     Active Substance: CLOMIPRAMINE
     Dosage: 25 MG
     Dates: end: 202008
  221. CLOMIPRAMINE [Concomitant]
     Active Substance: CLOMIPRAMINE
     Dosage: 50 MG
     Dates: end: 202008
  222. CLOMIPRAMINE [Concomitant]
     Active Substance: CLOMIPRAMINE
     Dosage: 25 MG
     Dates: end: 202008
  223. CLOMIPRAMINE [Concomitant]
     Active Substance: CLOMIPRAMINE
     Dosage: 50 MG
     Dates: end: 202008
  224. CLOMIPRAMINE [Concomitant]
     Active Substance: CLOMIPRAMINE
     Dosage: 25 MG
     Dates: end: 202008
  225. CLOMIPRAMINE [Concomitant]
     Active Substance: CLOMIPRAMINE
     Dosage: 50 MG
     Dates: end: 202008
  226. CLOMIPRAMINE [Concomitant]
     Active Substance: CLOMIPRAMINE
     Dosage: 25 MG
     Dates: end: 202008
  227. CLOMIPRAMINE [Concomitant]
     Active Substance: CLOMIPRAMINE
     Dosage: 50 MG
     Dates: end: 202008
  228. CLOMIPRAMINE [Concomitant]
     Active Substance: CLOMIPRAMINE
     Dosage: 25 MG
     Dates: end: 202008
  229. CLOMIPRAMINE [Concomitant]
     Active Substance: CLOMIPRAMINE
     Dosage: 50 MG
     Dates: end: 202008
  230. CLOMIPRAMINE [Concomitant]
     Active Substance: CLOMIPRAMINE
     Dosage: 25 MG
     Dates: end: 202008
  231. CLOMIPRAMINE [Concomitant]
     Active Substance: CLOMIPRAMINE
     Dosage: 50 MG
     Dates: end: 202008
  232. CLOMIPRAMINE [Concomitant]
     Active Substance: CLOMIPRAMINE
     Dosage: 25 MG
     Dates: end: 202008
  233. CLOMIPRAMINE [Concomitant]
     Active Substance: CLOMIPRAMINE
     Dosage: 50 MG
     Dates: end: 202008
  234. CLOMIPRAMINE [Concomitant]
     Active Substance: CLOMIPRAMINE
     Dosage: 25 MG
     Dates: end: 202008
  235. CLOMIPRAMINE [Concomitant]
     Active Substance: CLOMIPRAMINE
     Dosage: 50 MG
     Dates: end: 202008
  236. CLOMIPRAMINE [Concomitant]
     Active Substance: CLOMIPRAMINE
     Dosage: 25 MG
     Dates: end: 202008
  237. CLOMIPRAMINE [Concomitant]
     Active Substance: CLOMIPRAMINE
     Dosage: 50 MG
     Dates: end: 202008
  238. CLOMIPRAMINE [Concomitant]
     Active Substance: CLOMIPRAMINE
     Dosage: 25 MG
     Dates: end: 202008
  239. CLOMIPRAMINE [Concomitant]
     Active Substance: CLOMIPRAMINE
     Dosage: 50 MG
     Dates: end: 202008
  240. CLOMIPRAMINE [Concomitant]
     Active Substance: CLOMIPRAMINE
     Dosage: 25 MG
     Dates: end: 202008
  241. CLOMIPRAMINE [Concomitant]
     Active Substance: CLOMIPRAMINE
     Dosage: 50 MG
     Dates: end: 202008
  242. CLOMIPRAMINE [Concomitant]
     Active Substance: CLOMIPRAMINE
     Dosage: 25 MG
     Dates: end: 202008
  243. CLOMIPRAMINE [Concomitant]
     Active Substance: CLOMIPRAMINE
     Dosage: 50 MG
     Dates: end: 202008
  244. CLOMIPRAMINE [Concomitant]
     Active Substance: CLOMIPRAMINE
     Dosage: 25 MG
     Dates: end: 202008
  245. CLOMIPRAMINE [Concomitant]
     Active Substance: CLOMIPRAMINE
     Dosage: 50 MG
     Dates: end: 202008
  246. CLOMIPRAMINE [Concomitant]
     Active Substance: CLOMIPRAMINE
     Dosage: 25 MG
     Dates: end: 202008
  247. CLOMIPRAMINE [Concomitant]
     Active Substance: CLOMIPRAMINE
     Dosage: 50 MG
     Dates: end: 202008
  248. CLOMIPRAMINE [Concomitant]
     Active Substance: CLOMIPRAMINE
     Dosage: 25 MG
     Dates: end: 202008
  249. CLOMIPRAMINE [Concomitant]
     Active Substance: CLOMIPRAMINE
     Dosage: 50 MG
     Dates: end: 202008
  250. DICYCLOMINE [Concomitant]
     Active Substance: DICYCLOMINE HYDROCHLORIDE
     Indication: Product used for unknown indication
  251. DICYCLOMINE [Concomitant]
     Active Substance: DICYCLOMINE HYDROCHLORIDE
  252. DICYCLOMINE [Concomitant]
     Active Substance: DICYCLOMINE HYDROCHLORIDE
  253. DICYCLOMINE [Concomitant]
     Active Substance: DICYCLOMINE HYDROCHLORIDE
  254. DICYCLOMINE [Concomitant]
     Active Substance: DICYCLOMINE HYDROCHLORIDE
  255. DICYCLOMINE [Concomitant]
     Active Substance: DICYCLOMINE HYDROCHLORIDE
  256. DICYCLOMINE [Concomitant]
     Active Substance: DICYCLOMINE HYDROCHLORIDE
  257. DICYCLOMINE [Concomitant]
     Active Substance: DICYCLOMINE HYDROCHLORIDE
  258. DICYCLOMINE [Concomitant]
     Active Substance: DICYCLOMINE HYDROCHLORIDE
  259. DICYCLOMINE [Concomitant]
     Active Substance: DICYCLOMINE HYDROCHLORIDE
  260. DICYCLOMINE [Concomitant]
     Active Substance: DICYCLOMINE HYDROCHLORIDE
  261. DICYCLOMINE [Concomitant]
     Active Substance: DICYCLOMINE HYDROCHLORIDE
  262. DICYCLOMINE [Concomitant]
     Active Substance: DICYCLOMINE HYDROCHLORIDE
  263. DICYCLOMINE [Concomitant]
     Active Substance: DICYCLOMINE HYDROCHLORIDE
  264. DICYCLOMINE [Concomitant]
     Active Substance: DICYCLOMINE HYDROCHLORIDE
  265. DICYCLOMINE [Concomitant]
     Active Substance: DICYCLOMINE HYDROCHLORIDE
  266. DICYCLOMINE [Concomitant]
     Active Substance: DICYCLOMINE HYDROCHLORIDE
  267. DICYCLOMINE [Concomitant]
     Active Substance: DICYCLOMINE HYDROCHLORIDE
  268. DICYCLOMINE [Concomitant]
     Active Substance: DICYCLOMINE HYDROCHLORIDE
  269. DICYCLOMINE [Concomitant]
     Active Substance: DICYCLOMINE HYDROCHLORIDE
  270. DICYCLOMINE [Concomitant]
     Active Substance: DICYCLOMINE HYDROCHLORIDE
  271. DICYCLOMINE [Concomitant]
     Active Substance: DICYCLOMINE HYDROCHLORIDE
  272. DICYCLOMINE [Concomitant]
     Active Substance: DICYCLOMINE HYDROCHLORIDE
  273. DICYCLOMINE [Concomitant]
     Active Substance: DICYCLOMINE HYDROCHLORIDE
  274. DICYCLOMINE [Concomitant]
     Active Substance: DICYCLOMINE HYDROCHLORIDE
  275. DICYCLOMINE [Concomitant]
     Active Substance: DICYCLOMINE HYDROCHLORIDE
  276. DICYCLOMINE [Concomitant]
     Active Substance: DICYCLOMINE HYDROCHLORIDE
  277. DICYCLOMINE [Concomitant]
     Active Substance: DICYCLOMINE HYDROCHLORIDE
  278. DICYCLOMINE [Concomitant]
     Active Substance: DICYCLOMINE HYDROCHLORIDE
  279. DICYCLOMINE [Concomitant]
     Active Substance: DICYCLOMINE HYDROCHLORIDE
  280. FENNEL [FOENICULUM VULGARE SEED] [Concomitant]
     Indication: Product used for unknown indication
  281. FENNEL [FOENICULUM VULGARE SEED] [Concomitant]
  282. FENNEL [FOENICULUM VULGARE SEED] [Concomitant]
  283. FENNEL [FOENICULUM VULGARE SEED] [Concomitant]
  284. FENNEL [FOENICULUM VULGARE SEED] [Concomitant]
  285. FENNEL [FOENICULUM VULGARE SEED] [Concomitant]
  286. FENNEL [FOENICULUM VULGARE SEED] [Concomitant]
  287. FENNEL [FOENICULUM VULGARE SEED] [Concomitant]
  288. FENNEL [FOENICULUM VULGARE SEED] [Concomitant]
  289. FENNEL [FOENICULUM VULGARE SEED] [Concomitant]
  290. FENNEL [FOENICULUM VULGARE SEED] [Concomitant]
  291. FENNEL [FOENICULUM VULGARE SEED] [Concomitant]
  292. FENNEL [FOENICULUM VULGARE SEED] [Concomitant]
  293. FENNEL [FOENICULUM VULGARE SEED] [Concomitant]
  294. FENNEL [FOENICULUM VULGARE SEED] [Concomitant]
  295. FENNEL [FOENICULUM VULGARE SEED] [Concomitant]
  296. FENNEL [FOENICULUM VULGARE SEED] [Concomitant]
  297. FENNEL [FOENICULUM VULGARE SEED] [Concomitant]
  298. FENNEL [FOENICULUM VULGARE SEED] [Concomitant]
  299. FENNEL [FOENICULUM VULGARE SEED] [Concomitant]
  300. FENNEL [FOENICULUM VULGARE SEED] [Concomitant]
  301. FENNEL [FOENICULUM VULGARE SEED] [Concomitant]
  302. FENNEL [FOENICULUM VULGARE SEED] [Concomitant]
  303. FENNEL [FOENICULUM VULGARE SEED] [Concomitant]
  304. FENNEL [FOENICULUM VULGARE SEED] [Concomitant]
  305. FENNEL [FOENICULUM VULGARE SEED] [Concomitant]
  306. FENNEL [FOENICULUM VULGARE SEED] [Concomitant]
  307. FENNEL [FOENICULUM VULGARE SEED] [Concomitant]
  308. FENNEL [FOENICULUM VULGARE SEED] [Concomitant]
  309. FENNEL [FOENICULUM VULGARE SEED] [Concomitant]
  310. FLORASTOR [SACCHAROMYCES BOULARDII] [Concomitant]
     Indication: Product used for unknown indication
  311. FLORASTOR [SACCHAROMYCES BOULARDII] [Concomitant]
  312. FLORASTOR [SACCHAROMYCES BOULARDII] [Concomitant]
  313. FLORASTOR [SACCHAROMYCES BOULARDII] [Concomitant]
  314. FLORASTOR [SACCHAROMYCES BOULARDII] [Concomitant]
  315. FLORASTOR [SACCHAROMYCES BOULARDII] [Concomitant]
  316. FLORASTOR [SACCHAROMYCES BOULARDII] [Concomitant]
  317. FLORASTOR [SACCHAROMYCES BOULARDII] [Concomitant]
  318. FLORASTOR [SACCHAROMYCES BOULARDII] [Concomitant]
  319. FLORASTOR [SACCHAROMYCES BOULARDII] [Concomitant]
  320. FLORASTOR [SACCHAROMYCES BOULARDII] [Concomitant]
  321. FLORASTOR [SACCHAROMYCES BOULARDII] [Concomitant]
  322. FLORASTOR [SACCHAROMYCES BOULARDII] [Concomitant]
  323. FLORASTOR [SACCHAROMYCES BOULARDII] [Concomitant]
  324. FLORASTOR [SACCHAROMYCES BOULARDII] [Concomitant]
  325. FLORASTOR [SACCHAROMYCES BOULARDII] [Concomitant]
  326. FLORASTOR [SACCHAROMYCES BOULARDII] [Concomitant]
  327. FLORASTOR [SACCHAROMYCES BOULARDII] [Concomitant]
  328. FLORASTOR [SACCHAROMYCES BOULARDII] [Concomitant]
  329. FLORASTOR [SACCHAROMYCES BOULARDII] [Concomitant]
  330. FLORASTOR [SACCHAROMYCES BOULARDII] [Concomitant]
  331. FLORASTOR [SACCHAROMYCES BOULARDII] [Concomitant]
  332. FLORASTOR [SACCHAROMYCES BOULARDII] [Concomitant]
  333. FLORASTOR [SACCHAROMYCES BOULARDII] [Concomitant]
  334. FLORASTOR [SACCHAROMYCES BOULARDII] [Concomitant]
  335. FLORASTOR [SACCHAROMYCES BOULARDII] [Concomitant]
  336. FLORASTOR [SACCHAROMYCES BOULARDII] [Concomitant]
  337. FLORASTOR [SACCHAROMYCES BOULARDII] [Concomitant]
  338. FLORASTOR [SACCHAROMYCES BOULARDII] [Concomitant]
  339. FLORASTOR [SACCHAROMYCES BOULARDII] [Concomitant]
  340. KLONOPIN [Concomitant]
     Active Substance: CLONAZEPAM
     Indication: Product used for unknown indication
     Dosage: UNK
     Dates: end: 201810
  341. KLONOPIN [Concomitant]
     Active Substance: CLONAZEPAM
     Dosage: UNK
     Dates: end: 201810
  342. KLONOPIN [Concomitant]
     Active Substance: CLONAZEPAM
     Dosage: UNK
     Dates: end: 201810
  343. KLONOPIN [Concomitant]
     Active Substance: CLONAZEPAM
     Dosage: UNK
     Dates: end: 201810
  344. KLONOPIN [Concomitant]
     Active Substance: CLONAZEPAM
     Dosage: UNK
     Dates: end: 201810
  345. KLONOPIN [Concomitant]
     Active Substance: CLONAZEPAM
     Dosage: UNK
     Dates: end: 201810
  346. KLONOPIN [Concomitant]
     Active Substance: CLONAZEPAM
     Dosage: UNK
     Dates: end: 201810
  347. KLONOPIN [Concomitant]
     Active Substance: CLONAZEPAM
     Dosage: UNK
     Dates: end: 201810
  348. KLONOPIN [Concomitant]
     Active Substance: CLONAZEPAM
     Dosage: UNK
     Dates: end: 201810
  349. KLONOPIN [Concomitant]
     Active Substance: CLONAZEPAM
     Dosage: UNK
     Dates: end: 201810
  350. KLONOPIN [Concomitant]
     Active Substance: CLONAZEPAM
     Dosage: UNK
     Dates: end: 201810
  351. KLONOPIN [Concomitant]
     Active Substance: CLONAZEPAM
     Dosage: UNK
     Dates: end: 201810
  352. KLONOPIN [Concomitant]
     Active Substance: CLONAZEPAM
     Dosage: UNK
     Dates: end: 201810
  353. KLONOPIN [Concomitant]
     Active Substance: CLONAZEPAM
     Dosage: UNK
     Dates: end: 201810
  354. KLONOPIN [Concomitant]
     Active Substance: CLONAZEPAM
     Dosage: UNK
     Dates: end: 201810
  355. KLONOPIN [Concomitant]
     Active Substance: CLONAZEPAM
     Dosage: UNK
     Dates: end: 201810
  356. KLONOPIN [Concomitant]
     Active Substance: CLONAZEPAM
     Dosage: UNK
     Dates: end: 201810
  357. KLONOPIN [Concomitant]
     Active Substance: CLONAZEPAM
     Dosage: UNK
     Dates: end: 201810
  358. KLONOPIN [Concomitant]
     Active Substance: CLONAZEPAM
     Dosage: UNK
     Dates: end: 201810
  359. KLONOPIN [Concomitant]
     Active Substance: CLONAZEPAM
     Dosage: UNK
     Dates: end: 201810
  360. KLONOPIN [Concomitant]
     Active Substance: CLONAZEPAM
     Dosage: UNK
     Dates: end: 201810
  361. KLONOPIN [Concomitant]
     Active Substance: CLONAZEPAM
     Dosage: UNK
     Dates: end: 201810
  362. KLONOPIN [Concomitant]
     Active Substance: CLONAZEPAM
     Dosage: UNK
     Dates: end: 201810
  363. KLONOPIN [Concomitant]
     Active Substance: CLONAZEPAM
     Dosage: UNK
     Dates: end: 201810
  364. KLONOPIN [Concomitant]
     Active Substance: CLONAZEPAM
     Dosage: UNK
     Dates: end: 201810
  365. KLONOPIN [Concomitant]
     Active Substance: CLONAZEPAM
     Dosage: UNK
     Dates: end: 201810
  366. KLONOPIN [Concomitant]
     Active Substance: CLONAZEPAM
     Dosage: UNK
     Dates: end: 201810
  367. KLONOPIN [Concomitant]
     Active Substance: CLONAZEPAM
     Dosage: UNK
     Dates: end: 201810
  368. KLONOPIN [Concomitant]
     Active Substance: CLONAZEPAM
     Dosage: UNK
     Dates: end: 201810
  369. KLONOPIN [Concomitant]
     Active Substance: CLONAZEPAM
     Dosage: UNK
     Dates: end: 201810
  370. KYLEENA [Concomitant]
     Active Substance: LEVONORGESTREL
     Indication: Product used for unknown indication
  371. KYLEENA [Concomitant]
     Active Substance: LEVONORGESTREL
  372. KYLEENA [Concomitant]
     Active Substance: LEVONORGESTREL
  373. KYLEENA [Concomitant]
     Active Substance: LEVONORGESTREL
  374. KYLEENA [Concomitant]
     Active Substance: LEVONORGESTREL
  375. KYLEENA [Concomitant]
     Active Substance: LEVONORGESTREL
  376. KYLEENA [Concomitant]
     Active Substance: LEVONORGESTREL
  377. KYLEENA [Concomitant]
     Active Substance: LEVONORGESTREL
  378. KYLEENA [Concomitant]
     Active Substance: LEVONORGESTREL
  379. KYLEENA [Concomitant]
     Active Substance: LEVONORGESTREL
  380. KYLEENA [Concomitant]
     Active Substance: LEVONORGESTREL
  381. KYLEENA [Concomitant]
     Active Substance: LEVONORGESTREL
  382. KYLEENA [Concomitant]
     Active Substance: LEVONORGESTREL
  383. KYLEENA [Concomitant]
     Active Substance: LEVONORGESTREL
  384. KYLEENA [Concomitant]
     Active Substance: LEVONORGESTREL
  385. KYLEENA [Concomitant]
     Active Substance: LEVONORGESTREL
  386. KYLEENA [Concomitant]
     Active Substance: LEVONORGESTREL
  387. KYLEENA [Concomitant]
     Active Substance: LEVONORGESTREL
  388. KYLEENA [Concomitant]
     Active Substance: LEVONORGESTREL
  389. KYLEENA [Concomitant]
     Active Substance: LEVONORGESTREL
  390. KYLEENA [Concomitant]
     Active Substance: LEVONORGESTREL
  391. KYLEENA [Concomitant]
     Active Substance: LEVONORGESTREL
  392. KYLEENA [Concomitant]
     Active Substance: LEVONORGESTREL
  393. KYLEENA [Concomitant]
     Active Substance: LEVONORGESTREL
  394. KYLEENA [Concomitant]
     Active Substance: LEVONORGESTREL
  395. KYLEENA [Concomitant]
     Active Substance: LEVONORGESTREL
  396. KYLEENA [Concomitant]
     Active Substance: LEVONORGESTREL
  397. KYLEENA [Concomitant]
     Active Substance: LEVONORGESTREL
  398. KYLEENA [Concomitant]
     Active Substance: LEVONORGESTREL
  399. KYLEENA [Concomitant]
     Active Substance: LEVONORGESTREL
  400. LO LOESTRIN FE [Concomitant]
     Active Substance: ETHINYL ESTRADIOL\NORETHINDRONE ACETATE
     Indication: Product used for unknown indication
     Dosage: UNK
     Dates: end: 202008
  401. LO LOESTRIN FE [Concomitant]
     Active Substance: ETHINYL ESTRADIOL\NORETHINDRONE ACETATE
     Dosage: UNK
     Dates: end: 202008
  402. LO LOESTRIN FE [Concomitant]
     Active Substance: ETHINYL ESTRADIOL\NORETHINDRONE ACETATE
     Dosage: UNK
     Dates: end: 202008
  403. LO LOESTRIN FE [Concomitant]
     Active Substance: ETHINYL ESTRADIOL\NORETHINDRONE ACETATE
     Dosage: UNK
     Dates: end: 202008
  404. LO LOESTRIN FE [Concomitant]
     Active Substance: ETHINYL ESTRADIOL\NORETHINDRONE ACETATE
     Dosage: UNK
     Dates: end: 202008
  405. LO LOESTRIN FE [Concomitant]
     Active Substance: ETHINYL ESTRADIOL\NORETHINDRONE ACETATE
     Dosage: UNK
     Dates: end: 202008
  406. LO LOESTRIN FE [Concomitant]
     Active Substance: ETHINYL ESTRADIOL\NORETHINDRONE ACETATE
     Dosage: UNK
     Dates: end: 202008
  407. LO LOESTRIN FE [Concomitant]
     Active Substance: ETHINYL ESTRADIOL\NORETHINDRONE ACETATE
     Dosage: UNK
     Dates: end: 202008
  408. LO LOESTRIN FE [Concomitant]
     Active Substance: ETHINYL ESTRADIOL\NORETHINDRONE ACETATE
     Dosage: UNK
     Dates: end: 202008
  409. LO LOESTRIN FE [Concomitant]
     Active Substance: ETHINYL ESTRADIOL\NORETHINDRONE ACETATE
     Dosage: UNK
     Dates: end: 202008
  410. LO LOESTRIN FE [Concomitant]
     Active Substance: ETHINYL ESTRADIOL\NORETHINDRONE ACETATE
     Dosage: UNK
     Dates: end: 202008
  411. LO LOESTRIN FE [Concomitant]
     Active Substance: ETHINYL ESTRADIOL\NORETHINDRONE ACETATE
     Dosage: UNK
     Dates: end: 202008
  412. LO LOESTRIN FE [Concomitant]
     Active Substance: ETHINYL ESTRADIOL\NORETHINDRONE ACETATE
     Dosage: UNK
     Dates: end: 202008
  413. LO LOESTRIN FE [Concomitant]
     Active Substance: ETHINYL ESTRADIOL\NORETHINDRONE ACETATE
     Dosage: UNK
     Dates: end: 202008
  414. LO LOESTRIN FE [Concomitant]
     Active Substance: ETHINYL ESTRADIOL\NORETHINDRONE ACETATE
     Dosage: UNK
     Dates: end: 202008
  415. LO LOESTRIN FE [Concomitant]
     Active Substance: ETHINYL ESTRADIOL\NORETHINDRONE ACETATE
     Dosage: UNK
     Dates: end: 202008
  416. LO LOESTRIN FE [Concomitant]
     Active Substance: ETHINYL ESTRADIOL\NORETHINDRONE ACETATE
     Dosage: UNK
     Dates: end: 202008
  417. LO LOESTRIN FE [Concomitant]
     Active Substance: ETHINYL ESTRADIOL\NORETHINDRONE ACETATE
     Dosage: UNK
     Dates: end: 202008
  418. LO LOESTRIN FE [Concomitant]
     Active Substance: ETHINYL ESTRADIOL\NORETHINDRONE ACETATE
     Dosage: UNK
     Dates: end: 202008
  419. LO LOESTRIN FE [Concomitant]
     Active Substance: ETHINYL ESTRADIOL\NORETHINDRONE ACETATE
     Dosage: UNK
     Dates: end: 202008
  420. LO LOESTRIN FE [Concomitant]
     Active Substance: ETHINYL ESTRADIOL\NORETHINDRONE ACETATE
     Dosage: UNK
     Dates: end: 202008
  421. LO LOESTRIN FE [Concomitant]
     Active Substance: ETHINYL ESTRADIOL\NORETHINDRONE ACETATE
     Dosage: UNK
     Dates: end: 202008
  422. LO LOESTRIN FE [Concomitant]
     Active Substance: ETHINYL ESTRADIOL\NORETHINDRONE ACETATE
     Dosage: UNK
     Dates: end: 202008
  423. LO LOESTRIN FE [Concomitant]
     Active Substance: ETHINYL ESTRADIOL\NORETHINDRONE ACETATE
     Dosage: UNK
     Dates: end: 202008
  424. LO LOESTRIN FE [Concomitant]
     Active Substance: ETHINYL ESTRADIOL\NORETHINDRONE ACETATE
     Dosage: UNK
     Dates: end: 202008
  425. LO LOESTRIN FE [Concomitant]
     Active Substance: ETHINYL ESTRADIOL\NORETHINDRONE ACETATE
     Dosage: UNK
     Dates: end: 202008
  426. LO LOESTRIN FE [Concomitant]
     Active Substance: ETHINYL ESTRADIOL\NORETHINDRONE ACETATE
     Dosage: UNK
     Dates: end: 202008
  427. LO LOESTRIN FE [Concomitant]
     Active Substance: ETHINYL ESTRADIOL\NORETHINDRONE ACETATE
     Dosage: UNK
     Dates: end: 202008
  428. LO LOESTRIN FE [Concomitant]
     Active Substance: ETHINYL ESTRADIOL\NORETHINDRONE ACETATE
     Dosage: UNK
     Dates: end: 202008
  429. LO LOESTRIN FE [Concomitant]
     Active Substance: ETHINYL ESTRADIOL\NORETHINDRONE ACETATE
     Dosage: UNK
     Dates: end: 202008
  430. MAGNESIUM OXIDE [Concomitant]
     Active Substance: MAGNESIUM OXIDE
     Indication: Product used for unknown indication
  431. MAGNESIUM OXIDE [Concomitant]
     Active Substance: MAGNESIUM OXIDE
  432. MAGNESIUM OXIDE [Concomitant]
     Active Substance: MAGNESIUM OXIDE
  433. MAGNESIUM OXIDE [Concomitant]
     Active Substance: MAGNESIUM OXIDE
  434. MAGNESIUM OXIDE [Concomitant]
     Active Substance: MAGNESIUM OXIDE
  435. MAGNESIUM OXIDE [Concomitant]
     Active Substance: MAGNESIUM OXIDE
  436. MAGNESIUM OXIDE [Concomitant]
     Active Substance: MAGNESIUM OXIDE
  437. MAGNESIUM OXIDE [Concomitant]
     Active Substance: MAGNESIUM OXIDE
  438. MAGNESIUM OXIDE [Concomitant]
     Active Substance: MAGNESIUM OXIDE
  439. MAGNESIUM OXIDE [Concomitant]
     Active Substance: MAGNESIUM OXIDE
  440. MAGNESIUM OXIDE [Concomitant]
     Active Substance: MAGNESIUM OXIDE
  441. MAGNESIUM OXIDE [Concomitant]
     Active Substance: MAGNESIUM OXIDE
  442. MAGNESIUM OXIDE [Concomitant]
     Active Substance: MAGNESIUM OXIDE
  443. MAGNESIUM OXIDE [Concomitant]
     Active Substance: MAGNESIUM OXIDE
  444. MAGNESIUM OXIDE [Concomitant]
     Active Substance: MAGNESIUM OXIDE
  445. MAGNESIUM OXIDE [Concomitant]
     Active Substance: MAGNESIUM OXIDE
  446. MAGNESIUM OXIDE [Concomitant]
     Active Substance: MAGNESIUM OXIDE
  447. MAGNESIUM OXIDE [Concomitant]
     Active Substance: MAGNESIUM OXIDE
  448. MAGNESIUM OXIDE [Concomitant]
     Active Substance: MAGNESIUM OXIDE
  449. MAGNESIUM OXIDE [Concomitant]
     Active Substance: MAGNESIUM OXIDE
  450. MAGNESIUM OXIDE [Concomitant]
     Active Substance: MAGNESIUM OXIDE
  451. MAGNESIUM OXIDE [Concomitant]
     Active Substance: MAGNESIUM OXIDE
  452. MAGNESIUM OXIDE [Concomitant]
     Active Substance: MAGNESIUM OXIDE
  453. MAGNESIUM OXIDE [Concomitant]
     Active Substance: MAGNESIUM OXIDE
  454. MAGNESIUM OXIDE [Concomitant]
     Active Substance: MAGNESIUM OXIDE
  455. MAGNESIUM OXIDE [Concomitant]
     Active Substance: MAGNESIUM OXIDE
  456. MAGNESIUM OXIDE [Concomitant]
     Active Substance: MAGNESIUM OXIDE
  457. MAGNESIUM OXIDE [Concomitant]
     Active Substance: MAGNESIUM OXIDE
  458. MAGNESIUM OXIDE [Concomitant]
     Active Substance: MAGNESIUM OXIDE
  459. MAGNESIUM OXIDE [Concomitant]
     Active Substance: MAGNESIUM OXIDE
  460. MUCINEX [Concomitant]
     Active Substance: GUAIFENESIN
     Indication: Product used for unknown indication
     Dosage: UNK
     Dates: end: 202008
  461. MUCINEX [Concomitant]
     Active Substance: GUAIFENESIN
     Dosage: UNK
     Dates: end: 202008
  462. MUCINEX [Concomitant]
     Active Substance: GUAIFENESIN
     Dosage: UNK
     Dates: end: 202008
  463. MUCINEX [Concomitant]
     Active Substance: GUAIFENESIN
     Dosage: UNK
     Dates: end: 202008
  464. MUCINEX [Concomitant]
     Active Substance: GUAIFENESIN
     Dosage: UNK
     Dates: end: 202008
  465. MUCINEX [Concomitant]
     Active Substance: GUAIFENESIN
     Dosage: UNK
     Dates: end: 202008
  466. MUCINEX [Concomitant]
     Active Substance: GUAIFENESIN
     Dosage: UNK
     Dates: end: 202008
  467. MUCINEX [Concomitant]
     Active Substance: GUAIFENESIN
     Dosage: UNK
     Dates: end: 202008
  468. MUCINEX [Concomitant]
     Active Substance: GUAIFENESIN
     Dosage: UNK
     Dates: end: 202008
  469. MUCINEX [Concomitant]
     Active Substance: GUAIFENESIN
     Dosage: UNK
     Dates: end: 202008
  470. MUCINEX [Concomitant]
     Active Substance: GUAIFENESIN
     Dosage: UNK
     Dates: end: 202008
  471. MUCINEX [Concomitant]
     Active Substance: GUAIFENESIN
     Dosage: UNK
     Dates: end: 202008
  472. MUCINEX [Concomitant]
     Active Substance: GUAIFENESIN
     Dosage: UNK
     Dates: end: 202008
  473. MUCINEX [Concomitant]
     Active Substance: GUAIFENESIN
     Dosage: UNK
     Dates: end: 202008
  474. MUCINEX [Concomitant]
     Active Substance: GUAIFENESIN
     Dosage: UNK
     Dates: end: 202008
  475. MUCINEX [Concomitant]
     Active Substance: GUAIFENESIN
     Dosage: UNK
     Dates: end: 202008
  476. MUCINEX [Concomitant]
     Active Substance: GUAIFENESIN
     Dosage: UNK
     Dates: end: 202008
  477. MUCINEX [Concomitant]
     Active Substance: GUAIFENESIN
     Dosage: UNK
     Dates: end: 202008
  478. MUCINEX [Concomitant]
     Active Substance: GUAIFENESIN
     Dosage: UNK
     Dates: end: 202008
  479. MUCINEX [Concomitant]
     Active Substance: GUAIFENESIN
     Dosage: UNK
     Dates: end: 202008
  480. MUCINEX [Concomitant]
     Active Substance: GUAIFENESIN
     Dosage: UNK
     Dates: end: 202008
  481. MUCINEX [Concomitant]
     Active Substance: GUAIFENESIN
     Dosage: UNK
     Dates: end: 202008
  482. MUCINEX [Concomitant]
     Active Substance: GUAIFENESIN
     Dosage: UNK
     Dates: end: 202008
  483. MUCINEX [Concomitant]
     Active Substance: GUAIFENESIN
     Dosage: UNK
     Dates: end: 202008
  484. MUCINEX [Concomitant]
     Active Substance: GUAIFENESIN
     Dosage: UNK
     Dates: end: 202008
  485. MUCINEX [Concomitant]
     Active Substance: GUAIFENESIN
     Dosage: UNK
     Dates: end: 202008
  486. MUCINEX [Concomitant]
     Active Substance: GUAIFENESIN
     Dosage: UNK
     Dates: end: 202008
  487. MUCINEX [Concomitant]
     Active Substance: GUAIFENESIN
     Dosage: UNK
     Dates: end: 202008
  488. MUCINEX [Concomitant]
     Active Substance: GUAIFENESIN
     Dosage: UNK
     Dates: end: 202008
  489. MUCINEX [Concomitant]
     Active Substance: GUAIFENESIN
     Dosage: UNK
     Dates: end: 202008
  490. ONEXTON [Concomitant]
     Active Substance: BENZOYL PEROXIDE\CLINDAMYCIN PHOSPHATE
     Indication: Product used for unknown indication
     Dosage: UNK
     Dates: end: 202008
  491. ONEXTON [Concomitant]
     Active Substance: BENZOYL PEROXIDE\CLINDAMYCIN PHOSPHATE
     Dosage: UNK
     Dates: end: 202008
  492. ONEXTON [Concomitant]
     Active Substance: BENZOYL PEROXIDE\CLINDAMYCIN PHOSPHATE
     Dosage: UNK
     Dates: end: 202008
  493. ONEXTON [Concomitant]
     Active Substance: BENZOYL PEROXIDE\CLINDAMYCIN PHOSPHATE
     Dosage: UNK
     Dates: end: 202008
  494. ONEXTON [Concomitant]
     Active Substance: BENZOYL PEROXIDE\CLINDAMYCIN PHOSPHATE
     Dosage: UNK
     Dates: end: 202008
  495. ONEXTON [Concomitant]
     Active Substance: BENZOYL PEROXIDE\CLINDAMYCIN PHOSPHATE
     Dosage: UNK
     Dates: end: 202008
  496. ONEXTON [Concomitant]
     Active Substance: BENZOYL PEROXIDE\CLINDAMYCIN PHOSPHATE
     Dosage: UNK
     Dates: end: 202008
  497. ONEXTON [Concomitant]
     Active Substance: BENZOYL PEROXIDE\CLINDAMYCIN PHOSPHATE
     Dosage: UNK
     Dates: end: 202008
  498. ONEXTON [Concomitant]
     Active Substance: BENZOYL PEROXIDE\CLINDAMYCIN PHOSPHATE
     Dosage: UNK
     Dates: end: 202008
  499. ONEXTON [Concomitant]
     Active Substance: BENZOYL PEROXIDE\CLINDAMYCIN PHOSPHATE
     Dosage: UNK
     Dates: end: 202008
  500. ONEXTON [Concomitant]
     Active Substance: BENZOYL PEROXIDE\CLINDAMYCIN PHOSPHATE
     Dosage: UNK
     Dates: end: 202008
  501. ONEXTON [Concomitant]
     Active Substance: BENZOYL PEROXIDE\CLINDAMYCIN PHOSPHATE
     Dosage: UNK
     Dates: end: 202008
  502. ONEXTON [Concomitant]
     Active Substance: BENZOYL PEROXIDE\CLINDAMYCIN PHOSPHATE
     Dosage: UNK
     Dates: end: 202008
  503. ONEXTON [Concomitant]
     Active Substance: BENZOYL PEROXIDE\CLINDAMYCIN PHOSPHATE
     Dosage: UNK
     Dates: end: 202008
  504. ONEXTON [Concomitant]
     Active Substance: BENZOYL PEROXIDE\CLINDAMYCIN PHOSPHATE
     Dosage: UNK
     Dates: end: 202008
  505. ONEXTON [Concomitant]
     Active Substance: BENZOYL PEROXIDE\CLINDAMYCIN PHOSPHATE
     Dosage: UNK
     Dates: end: 202008
  506. ONEXTON [Concomitant]
     Active Substance: BENZOYL PEROXIDE\CLINDAMYCIN PHOSPHATE
     Dosage: UNK
     Dates: end: 202008
  507. ONEXTON [Concomitant]
     Active Substance: BENZOYL PEROXIDE\CLINDAMYCIN PHOSPHATE
     Dosage: UNK
     Dates: end: 202008
  508. ONEXTON [Concomitant]
     Active Substance: BENZOYL PEROXIDE\CLINDAMYCIN PHOSPHATE
     Dosage: UNK
     Dates: end: 202008
  509. ONEXTON [Concomitant]
     Active Substance: BENZOYL PEROXIDE\CLINDAMYCIN PHOSPHATE
     Dosage: UNK
     Dates: end: 202008
  510. ONEXTON [Concomitant]
     Active Substance: BENZOYL PEROXIDE\CLINDAMYCIN PHOSPHATE
     Dosage: UNK
     Dates: end: 202008
  511. ONEXTON [Concomitant]
     Active Substance: BENZOYL PEROXIDE\CLINDAMYCIN PHOSPHATE
     Dosage: UNK
     Dates: end: 202008
  512. ONEXTON [Concomitant]
     Active Substance: BENZOYL PEROXIDE\CLINDAMYCIN PHOSPHATE
     Dosage: UNK
     Dates: end: 202008
  513. ONEXTON [Concomitant]
     Active Substance: BENZOYL PEROXIDE\CLINDAMYCIN PHOSPHATE
     Dosage: UNK
     Dates: end: 202008
  514. ONEXTON [Concomitant]
     Active Substance: BENZOYL PEROXIDE\CLINDAMYCIN PHOSPHATE
     Dosage: UNK
     Dates: end: 202008
  515. ONEXTON [Concomitant]
     Active Substance: BENZOYL PEROXIDE\CLINDAMYCIN PHOSPHATE
     Dosage: UNK
     Dates: end: 202008
  516. ONEXTON [Concomitant]
     Active Substance: BENZOYL PEROXIDE\CLINDAMYCIN PHOSPHATE
     Dosage: UNK
     Dates: end: 202008
  517. ONEXTON [Concomitant]
     Active Substance: BENZOYL PEROXIDE\CLINDAMYCIN PHOSPHATE
     Dosage: UNK
     Dates: end: 202008
  518. ONEXTON [Concomitant]
     Active Substance: BENZOYL PEROXIDE\CLINDAMYCIN PHOSPHATE
     Dosage: UNK
     Dates: end: 202008
  519. ONEXTON [Concomitant]
     Active Substance: BENZOYL PEROXIDE\CLINDAMYCIN PHOSPHATE
     Dosage: UNK
     Dates: end: 202008
  520. RETIN-A [Concomitant]
     Active Substance: TRETINOIN
     Indication: Product used for unknown indication
     Dosage: UNK
     Dates: end: 202008
  521. RETIN-A [Concomitant]
     Active Substance: TRETINOIN
     Dosage: UNK
     Dates: end: 202008
  522. RETIN-A [Concomitant]
     Active Substance: TRETINOIN
     Dosage: UNK
     Dates: end: 202008
  523. RETIN-A [Concomitant]
     Active Substance: TRETINOIN
     Dosage: UNK
     Dates: end: 202008
  524. RETIN-A [Concomitant]
     Active Substance: TRETINOIN
     Dosage: UNK
     Dates: end: 202008
  525. RETIN-A [Concomitant]
     Active Substance: TRETINOIN
     Dosage: UNK
     Dates: end: 202008
  526. RETIN-A [Concomitant]
     Active Substance: TRETINOIN
     Dosage: UNK
     Dates: end: 202008
  527. RETIN-A [Concomitant]
     Active Substance: TRETINOIN
     Dosage: UNK
     Dates: end: 202008
  528. RETIN-A [Concomitant]
     Active Substance: TRETINOIN
     Dosage: UNK
     Dates: end: 202008
  529. RETIN-A [Concomitant]
     Active Substance: TRETINOIN
     Dosage: UNK
     Dates: end: 202008
  530. RETIN-A [Concomitant]
     Active Substance: TRETINOIN
     Dosage: UNK
     Dates: end: 202008
  531. RETIN-A [Concomitant]
     Active Substance: TRETINOIN
     Dosage: UNK
     Dates: end: 202008
  532. RETIN-A [Concomitant]
     Active Substance: TRETINOIN
     Dosage: UNK
     Dates: end: 202008
  533. RETIN-A [Concomitant]
     Active Substance: TRETINOIN
     Dosage: UNK
     Dates: end: 202008
  534. RETIN-A [Concomitant]
     Active Substance: TRETINOIN
     Dosage: UNK
     Dates: end: 202008
  535. RETIN-A [Concomitant]
     Active Substance: TRETINOIN
     Dosage: UNK
     Dates: end: 202008
  536. RETIN-A [Concomitant]
     Active Substance: TRETINOIN
     Dosage: UNK
     Dates: end: 202008
  537. RETIN-A [Concomitant]
     Active Substance: TRETINOIN
     Dosage: UNK
     Dates: end: 202008
  538. RETIN-A [Concomitant]
     Active Substance: TRETINOIN
     Dosage: UNK
     Dates: end: 202008
  539. RETIN-A [Concomitant]
     Active Substance: TRETINOIN
     Dosage: UNK
     Dates: end: 202008
  540. RETIN-A [Concomitant]
     Active Substance: TRETINOIN
     Dosage: UNK
     Dates: end: 202008
  541. RETIN-A [Concomitant]
     Active Substance: TRETINOIN
     Dosage: UNK
     Dates: end: 202008
  542. RETIN-A [Concomitant]
     Active Substance: TRETINOIN
     Dosage: UNK
     Dates: end: 202008
  543. RETIN-A [Concomitant]
     Active Substance: TRETINOIN
     Dosage: UNK
     Dates: end: 202008
  544. RETIN-A [Concomitant]
     Active Substance: TRETINOIN
     Dosage: UNK
     Dates: end: 202008
  545. RETIN-A [Concomitant]
     Active Substance: TRETINOIN
     Dosage: UNK
     Dates: end: 202008
  546. RETIN-A [Concomitant]
     Active Substance: TRETINOIN
     Dosage: UNK
     Dates: end: 202008
  547. RETIN-A [Concomitant]
     Active Substance: TRETINOIN
     Dosage: UNK
     Dates: end: 202008
  548. RETIN-A [Concomitant]
     Active Substance: TRETINOIN
     Dosage: UNK
     Dates: end: 202008
  549. RETIN-A [Concomitant]
     Active Substance: TRETINOIN
     Dosage: UNK
     Dates: end: 202008
  550. RITALIN [Concomitant]
     Active Substance: METHYLPHENIDATE HYDROCHLORIDE
     Indication: Product used for unknown indication
     Dosage: UNK
     Dates: end: 202008
  551. RITALIN [Concomitant]
     Active Substance: METHYLPHENIDATE HYDROCHLORIDE
     Dosage: UNK
     Dates: end: 202008
  552. RITALIN [Concomitant]
     Active Substance: METHYLPHENIDATE HYDROCHLORIDE
     Dosage: UNK
     Dates: end: 202008
  553. RITALIN [Concomitant]
     Active Substance: METHYLPHENIDATE HYDROCHLORIDE
     Dosage: UNK
     Dates: end: 202008
  554. RITALIN [Concomitant]
     Active Substance: METHYLPHENIDATE HYDROCHLORIDE
     Dosage: UNK
     Dates: end: 202008
  555. RITALIN [Concomitant]
     Active Substance: METHYLPHENIDATE HYDROCHLORIDE
     Dosage: UNK
     Dates: end: 202008
  556. RITALIN [Concomitant]
     Active Substance: METHYLPHENIDATE HYDROCHLORIDE
     Dosage: UNK
     Dates: end: 202008
  557. RITALIN [Concomitant]
     Active Substance: METHYLPHENIDATE HYDROCHLORIDE
     Dosage: UNK
     Dates: end: 202008
  558. RITALIN [Concomitant]
     Active Substance: METHYLPHENIDATE HYDROCHLORIDE
     Dosage: UNK
     Dates: end: 202008
  559. RITALIN [Concomitant]
     Active Substance: METHYLPHENIDATE HYDROCHLORIDE
     Dosage: UNK
     Dates: end: 202008
  560. RITALIN [Concomitant]
     Active Substance: METHYLPHENIDATE HYDROCHLORIDE
     Dosage: UNK
     Dates: end: 202008
  561. RITALIN [Concomitant]
     Active Substance: METHYLPHENIDATE HYDROCHLORIDE
     Dosage: UNK
     Dates: end: 202008
  562. RITALIN [Concomitant]
     Active Substance: METHYLPHENIDATE HYDROCHLORIDE
     Dosage: UNK
     Dates: end: 202008
  563. RITALIN [Concomitant]
     Active Substance: METHYLPHENIDATE HYDROCHLORIDE
     Dosage: UNK
     Dates: end: 202008
  564. RITALIN [Concomitant]
     Active Substance: METHYLPHENIDATE HYDROCHLORIDE
     Dosage: UNK
     Dates: end: 202008
  565. RITALIN [Concomitant]
     Active Substance: METHYLPHENIDATE HYDROCHLORIDE
     Dosage: UNK
     Dates: end: 202008
  566. RITALIN [Concomitant]
     Active Substance: METHYLPHENIDATE HYDROCHLORIDE
     Dosage: UNK
     Dates: end: 202008
  567. RITALIN [Concomitant]
     Active Substance: METHYLPHENIDATE HYDROCHLORIDE
     Dosage: UNK
     Dates: end: 202008
  568. RITALIN [Concomitant]
     Active Substance: METHYLPHENIDATE HYDROCHLORIDE
     Dosage: UNK
     Dates: end: 202008
  569. RITALIN [Concomitant]
     Active Substance: METHYLPHENIDATE HYDROCHLORIDE
     Dosage: UNK
     Dates: end: 202008
  570. RITALIN [Concomitant]
     Active Substance: METHYLPHENIDATE HYDROCHLORIDE
     Dosage: UNK
     Dates: end: 202008
  571. RITALIN [Concomitant]
     Active Substance: METHYLPHENIDATE HYDROCHLORIDE
     Dosage: UNK
     Dates: end: 202008
  572. RITALIN [Concomitant]
     Active Substance: METHYLPHENIDATE HYDROCHLORIDE
     Dosage: UNK
     Dates: end: 202008
  573. RITALIN [Concomitant]
     Active Substance: METHYLPHENIDATE HYDROCHLORIDE
     Dosage: UNK
     Dates: end: 202008
  574. RITALIN [Concomitant]
     Active Substance: METHYLPHENIDATE HYDROCHLORIDE
     Dosage: UNK
     Dates: end: 202008
  575. RITALIN [Concomitant]
     Active Substance: METHYLPHENIDATE HYDROCHLORIDE
     Dosage: UNK
     Dates: end: 202008
  576. RITALIN [Concomitant]
     Active Substance: METHYLPHENIDATE HYDROCHLORIDE
     Dosage: UNK
     Dates: end: 202008
  577. RITALIN [Concomitant]
     Active Substance: METHYLPHENIDATE HYDROCHLORIDE
     Dosage: UNK
     Dates: end: 202008
  578. RITALIN [Concomitant]
     Active Substance: METHYLPHENIDATE HYDROCHLORIDE
     Dosage: UNK
     Dates: end: 202008
  579. RITALIN [Concomitant]
     Active Substance: METHYLPHENIDATE HYDROCHLORIDE
     Dosage: UNK
     Dates: end: 202008
  580. FERROUS SULFATE [Concomitant]
     Active Substance: FERROUS SULFATE
     Indication: Product used for unknown indication
  581. FERROUS SULFATE [Concomitant]
     Active Substance: FERROUS SULFATE
  582. FERROUS SULFATE [Concomitant]
     Active Substance: FERROUS SULFATE
  583. FERROUS SULFATE [Concomitant]
     Active Substance: FERROUS SULFATE
  584. FERROUS SULFATE [Concomitant]
     Active Substance: FERROUS SULFATE
  585. FERROUS SULFATE [Concomitant]
     Active Substance: FERROUS SULFATE
  586. FERROUS SULFATE [Concomitant]
     Active Substance: FERROUS SULFATE
  587. FERROUS SULFATE [Concomitant]
     Active Substance: FERROUS SULFATE
  588. FERROUS SULFATE [Concomitant]
     Active Substance: FERROUS SULFATE
  589. FERROUS SULFATE [Concomitant]
     Active Substance: FERROUS SULFATE
  590. FERROUS SULFATE [Concomitant]
     Active Substance: FERROUS SULFATE
  591. FERROUS SULFATE [Concomitant]
     Active Substance: FERROUS SULFATE
  592. FERROUS SULFATE [Concomitant]
     Active Substance: FERROUS SULFATE
  593. FERROUS SULFATE [Concomitant]
     Active Substance: FERROUS SULFATE
  594. FERROUS SULFATE [Concomitant]
     Active Substance: FERROUS SULFATE
  595. FERROUS SULFATE [Concomitant]
     Active Substance: FERROUS SULFATE
  596. FERROUS SULFATE [Concomitant]
     Active Substance: FERROUS SULFATE
  597. FERROUS SULFATE [Concomitant]
     Active Substance: FERROUS SULFATE
  598. FERROUS SULFATE [Concomitant]
     Active Substance: FERROUS SULFATE
  599. FERROUS SULFATE [Concomitant]
     Active Substance: FERROUS SULFATE
  600. FERROUS SULFATE [Concomitant]
     Active Substance: FERROUS SULFATE
  601. FERROUS SULFATE [Concomitant]
     Active Substance: FERROUS SULFATE
  602. FERROUS SULFATE [Concomitant]
     Active Substance: FERROUS SULFATE
  603. FERROUS SULFATE [Concomitant]
     Active Substance: FERROUS SULFATE
  604. FERROUS SULFATE [Concomitant]
     Active Substance: FERROUS SULFATE
  605. FERROUS SULFATE [Concomitant]
     Active Substance: FERROUS SULFATE
  606. FERROUS SULFATE [Concomitant]
     Active Substance: FERROUS SULFATE
  607. FERROUS SULFATE [Concomitant]
     Active Substance: FERROUS SULFATE
  608. FERROUS SULFATE [Concomitant]
     Active Substance: FERROUS SULFATE
  609. FERROUS SULFATE [Concomitant]
     Active Substance: FERROUS SULFATE
  610. VITAMIN B12 [Concomitant]
     Active Substance: CYANOCOBALAMIN
     Indication: Product used for unknown indication
  611. VITAMIN B12 [Concomitant]
     Active Substance: CYANOCOBALAMIN
  612. VITAMIN B12 [Concomitant]
     Active Substance: CYANOCOBALAMIN
  613. VITAMIN B12 [Concomitant]
     Active Substance: CYANOCOBALAMIN
  614. VITAMIN B12 [Concomitant]
     Active Substance: CYANOCOBALAMIN
  615. VITAMIN B12 [Concomitant]
     Active Substance: CYANOCOBALAMIN
  616. VITAMIN B12 [Concomitant]
     Active Substance: CYANOCOBALAMIN
  617. VITAMIN B12 [Concomitant]
     Active Substance: CYANOCOBALAMIN
  618. VITAMIN B12 [Concomitant]
     Active Substance: CYANOCOBALAMIN
  619. VITAMIN B12 [Concomitant]
     Active Substance: CYANOCOBALAMIN
  620. VITAMIN B12 [Concomitant]
     Active Substance: CYANOCOBALAMIN
  621. VITAMIN B12 [Concomitant]
     Active Substance: CYANOCOBALAMIN
  622. VITAMIN B12 [Concomitant]
     Active Substance: CYANOCOBALAMIN
  623. VITAMIN B12 [Concomitant]
     Active Substance: CYANOCOBALAMIN
  624. VITAMIN B12 [Concomitant]
     Active Substance: CYANOCOBALAMIN
  625. VITAMIN B12 [Concomitant]
     Active Substance: CYANOCOBALAMIN
  626. VITAMIN B12 [Concomitant]
     Active Substance: CYANOCOBALAMIN
  627. VITAMIN B12 [Concomitant]
     Active Substance: CYANOCOBALAMIN
  628. VITAMIN B12 [Concomitant]
     Active Substance: CYANOCOBALAMIN
  629. VITAMIN B12 [Concomitant]
     Active Substance: CYANOCOBALAMIN
  630. VITAMIN B12 [Concomitant]
     Active Substance: CYANOCOBALAMIN
  631. VITAMIN B12 [Concomitant]
     Active Substance: CYANOCOBALAMIN
  632. VITAMIN B12 [Concomitant]
     Active Substance: CYANOCOBALAMIN
  633. VITAMIN B12 [Concomitant]
     Active Substance: CYANOCOBALAMIN
  634. VITAMIN B12 [Concomitant]
     Active Substance: CYANOCOBALAMIN
  635. VITAMIN B12 [Concomitant]
     Active Substance: CYANOCOBALAMIN
  636. VITAMIN B12 [Concomitant]
     Active Substance: CYANOCOBALAMIN
  637. VITAMIN B12 [Concomitant]
     Active Substance: CYANOCOBALAMIN
  638. VITAMIN B12 [Concomitant]
     Active Substance: CYANOCOBALAMIN
  639. VITAMIN B12 [Concomitant]
     Active Substance: CYANOCOBALAMIN
  640. VITAMIN C [Concomitant]
     Active Substance: ASCORBIC ACID
     Indication: Product used for unknown indication
  641. VITAMIN C [Concomitant]
     Active Substance: ASCORBIC ACID
  642. VITAMIN C [Concomitant]
     Active Substance: ASCORBIC ACID
  643. VITAMIN C [Concomitant]
     Active Substance: ASCORBIC ACID
  644. VITAMIN C [Concomitant]
     Active Substance: ASCORBIC ACID
  645. VITAMIN C [Concomitant]
     Active Substance: ASCORBIC ACID
  646. VITAMIN C [Concomitant]
     Active Substance: ASCORBIC ACID
  647. VITAMIN C [Concomitant]
     Active Substance: ASCORBIC ACID
  648. VITAMIN C [Concomitant]
     Active Substance: ASCORBIC ACID
  649. VITAMIN C [Concomitant]
     Active Substance: ASCORBIC ACID
  650. VITAMIN C [Concomitant]
     Active Substance: ASCORBIC ACID
  651. VITAMIN C [Concomitant]
     Active Substance: ASCORBIC ACID
  652. VITAMIN C [Concomitant]
     Active Substance: ASCORBIC ACID
  653. VITAMIN C [Concomitant]
     Active Substance: ASCORBIC ACID
  654. VITAMIN C [Concomitant]
     Active Substance: ASCORBIC ACID
  655. VITAMIN C [Concomitant]
     Active Substance: ASCORBIC ACID
  656. VITAMIN C [Concomitant]
     Active Substance: ASCORBIC ACID
  657. VITAMIN C [Concomitant]
     Active Substance: ASCORBIC ACID
  658. VITAMIN C [Concomitant]
     Active Substance: ASCORBIC ACID
  659. VITAMIN C [Concomitant]
     Active Substance: ASCORBIC ACID
  660. VITAMIN C [Concomitant]
     Active Substance: ASCORBIC ACID
  661. VITAMIN C [Concomitant]
     Active Substance: ASCORBIC ACID
  662. VITAMIN C [Concomitant]
     Active Substance: ASCORBIC ACID
  663. VITAMIN C [Concomitant]
     Active Substance: ASCORBIC ACID
  664. VITAMIN C [Concomitant]
     Active Substance: ASCORBIC ACID
  665. VITAMIN C [Concomitant]
     Active Substance: ASCORBIC ACID
  666. VITAMIN C [Concomitant]
     Active Substance: ASCORBIC ACID
  667. VITAMIN C [Concomitant]
     Active Substance: ASCORBIC ACID
  668. VITAMIN C [Concomitant]
     Active Substance: ASCORBIC ACID
  669. VITAMIN C [Concomitant]
     Active Substance: ASCORBIC ACID
  670. WAKIX [Concomitant]
     Active Substance: PITOLISANT HYDROCHLORIDE
     Indication: Product used for unknown indication
     Dosage: UNK
     Dates: end: 202008
  671. WAKIX [Concomitant]
     Active Substance: PITOLISANT HYDROCHLORIDE
     Dosage: UNK
     Dates: end: 202008
  672. WAKIX [Concomitant]
     Active Substance: PITOLISANT HYDROCHLORIDE
     Dosage: UNK
     Dates: end: 202008
  673. WAKIX [Concomitant]
     Active Substance: PITOLISANT HYDROCHLORIDE
     Dosage: UNK
     Dates: end: 202008
  674. WAKIX [Concomitant]
     Active Substance: PITOLISANT HYDROCHLORIDE
     Dosage: UNK
     Dates: end: 202008
  675. WAKIX [Concomitant]
     Active Substance: PITOLISANT HYDROCHLORIDE
     Dosage: UNK
     Dates: end: 202008
  676. WAKIX [Concomitant]
     Active Substance: PITOLISANT HYDROCHLORIDE
     Dosage: UNK
     Dates: end: 202008
  677. WAKIX [Concomitant]
     Active Substance: PITOLISANT HYDROCHLORIDE
     Dosage: UNK
     Dates: end: 202008
  678. WAKIX [Concomitant]
     Active Substance: PITOLISANT HYDROCHLORIDE
     Dosage: UNK
     Dates: end: 202008
  679. WAKIX [Concomitant]
     Active Substance: PITOLISANT HYDROCHLORIDE
     Dosage: UNK
     Dates: end: 202008
  680. WAKIX [Concomitant]
     Active Substance: PITOLISANT HYDROCHLORIDE
     Dosage: UNK
     Dates: end: 202008
  681. WAKIX [Concomitant]
     Active Substance: PITOLISANT HYDROCHLORIDE
     Dosage: UNK
     Dates: end: 202008
  682. WAKIX [Concomitant]
     Active Substance: PITOLISANT HYDROCHLORIDE
     Dosage: UNK
     Dates: end: 202008
  683. WAKIX [Concomitant]
     Active Substance: PITOLISANT HYDROCHLORIDE
     Dosage: UNK
     Dates: end: 202008
  684. WAKIX [Concomitant]
     Active Substance: PITOLISANT HYDROCHLORIDE
     Dosage: UNK
     Dates: end: 202008
  685. WAKIX [Concomitant]
     Active Substance: PITOLISANT HYDROCHLORIDE
     Dosage: UNK
     Dates: end: 202008
  686. WAKIX [Concomitant]
     Active Substance: PITOLISANT HYDROCHLORIDE
     Dosage: UNK
     Dates: end: 202008
  687. WAKIX [Concomitant]
     Active Substance: PITOLISANT HYDROCHLORIDE
     Dosage: UNK
     Dates: end: 202008
  688. WAKIX [Concomitant]
     Active Substance: PITOLISANT HYDROCHLORIDE
     Dosage: UNK
     Dates: end: 202008
  689. WAKIX [Concomitant]
     Active Substance: PITOLISANT HYDROCHLORIDE
     Dosage: UNK
     Dates: end: 202008
  690. WAKIX [Concomitant]
     Active Substance: PITOLISANT HYDROCHLORIDE
     Dosage: UNK
     Dates: end: 202008
  691. WAKIX [Concomitant]
     Active Substance: PITOLISANT HYDROCHLORIDE
     Dosage: UNK
     Dates: end: 202008
  692. WAKIX [Concomitant]
     Active Substance: PITOLISANT HYDROCHLORIDE
     Dosage: UNK
     Dates: end: 202008
  693. WAKIX [Concomitant]
     Active Substance: PITOLISANT HYDROCHLORIDE
     Dosage: UNK
     Dates: end: 202008
  694. WAKIX [Concomitant]
     Active Substance: PITOLISANT HYDROCHLORIDE
     Dosage: UNK
     Dates: end: 202008
  695. WAKIX [Concomitant]
     Active Substance: PITOLISANT HYDROCHLORIDE
     Dosage: UNK
     Dates: end: 202008
  696. WAKIX [Concomitant]
     Active Substance: PITOLISANT HYDROCHLORIDE
     Dosage: UNK
     Dates: end: 202008
  697. WAKIX [Concomitant]
     Active Substance: PITOLISANT HYDROCHLORIDE
     Dosage: UNK
     Dates: end: 202008
  698. WAKIX [Concomitant]
     Active Substance: PITOLISANT HYDROCHLORIDE
     Dosage: UNK
     Dates: end: 202008
  699. WAKIX [Concomitant]
     Active Substance: PITOLISANT HYDROCHLORIDE
     Dosage: UNK
     Dates: end: 202008
  700. COENZYME Q10 [Concomitant]
     Active Substance: DIETARY SUPPLEMENT\UBIDECARENONE
  701. COENZYME Q10 [Concomitant]
     Active Substance: DIETARY SUPPLEMENT\UBIDECARENONE
  702. COENZYME Q10 [Concomitant]
     Active Substance: DIETARY SUPPLEMENT\UBIDECARENONE
  703. COENZYME Q10 [Concomitant]
     Active Substance: DIETARY SUPPLEMENT\UBIDECARENONE
  704. COENZYME Q10 [Concomitant]
     Active Substance: DIETARY SUPPLEMENT\UBIDECARENONE
  705. COENZYME Q10 [Concomitant]
     Active Substance: DIETARY SUPPLEMENT\UBIDECARENONE
  706. COENZYME Q10 [Concomitant]
     Active Substance: DIETARY SUPPLEMENT\UBIDECARENONE
  707. COENZYME Q10 [Concomitant]
     Active Substance: DIETARY SUPPLEMENT\UBIDECARENONE
  708. COENZYME Q10 [Concomitant]
     Active Substance: DIETARY SUPPLEMENT\UBIDECARENONE
  709. COENZYME Q10 [Concomitant]
     Active Substance: DIETARY SUPPLEMENT\UBIDECARENONE
  710. COENZYME Q10 [Concomitant]
     Active Substance: DIETARY SUPPLEMENT\UBIDECARENONE
  711. COENZYME Q10 [Concomitant]
     Active Substance: DIETARY SUPPLEMENT\UBIDECARENONE
  712. COENZYME Q10 [Concomitant]
     Active Substance: DIETARY SUPPLEMENT\UBIDECARENONE
  713. COENZYME Q10 [Concomitant]
     Active Substance: DIETARY SUPPLEMENT\UBIDECARENONE
  714. COENZYME Q10 [Concomitant]
     Active Substance: DIETARY SUPPLEMENT\UBIDECARENONE
  715. COENZYME Q10 [Concomitant]
     Active Substance: DIETARY SUPPLEMENT\UBIDECARENONE
  716. COENZYME Q10 [Concomitant]
     Active Substance: DIETARY SUPPLEMENT\UBIDECARENONE
  717. COENZYME Q10 [Concomitant]
     Active Substance: DIETARY SUPPLEMENT\UBIDECARENONE
  718. COENZYME Q10 [Concomitant]
     Active Substance: DIETARY SUPPLEMENT\UBIDECARENONE
  719. COENZYME Q10 [Concomitant]
     Active Substance: DIETARY SUPPLEMENT\UBIDECARENONE
  720. COENZYME Q10 [Concomitant]
     Active Substance: DIETARY SUPPLEMENT\UBIDECARENONE
  721. COENZYME Q10 [Concomitant]
     Active Substance: DIETARY SUPPLEMENT\UBIDECARENONE
  722. COENZYME Q10 [Concomitant]
     Active Substance: DIETARY SUPPLEMENT\UBIDECARENONE
  723. COENZYME Q10 [Concomitant]
     Active Substance: DIETARY SUPPLEMENT\UBIDECARENONE
  724. COENZYME Q10 [Concomitant]
     Active Substance: DIETARY SUPPLEMENT\UBIDECARENONE
  725. COENZYME Q10 [Concomitant]
     Active Substance: DIETARY SUPPLEMENT\UBIDECARENONE
  726. COENZYME Q10 [Concomitant]
     Active Substance: DIETARY SUPPLEMENT\UBIDECARENONE
  727. COENZYME Q10 [Concomitant]
     Active Substance: DIETARY SUPPLEMENT\UBIDECARENONE
  728. COENZYME Q10 [Concomitant]
     Active Substance: DIETARY SUPPLEMENT\UBIDECARENONE
  729. COENZYME Q10 [Concomitant]
     Active Substance: DIETARY SUPPLEMENT\UBIDECARENONE
  730. .GAMMA.-AMINOBUTYRIC ACID [Concomitant]
     Active Substance: .GAMMA.-AMINOBUTYRIC ACID
     Indication: Product used for unknown indication
  731. .GAMMA.-AMINOBUTYRIC ACID [Concomitant]
     Active Substance: .GAMMA.-AMINOBUTYRIC ACID
  732. .GAMMA.-AMINOBUTYRIC ACID [Concomitant]
     Active Substance: .GAMMA.-AMINOBUTYRIC ACID
  733. .GAMMA.-AMINOBUTYRIC ACID [Concomitant]
     Active Substance: .GAMMA.-AMINOBUTYRIC ACID
  734. .GAMMA.-AMINOBUTYRIC ACID [Concomitant]
     Active Substance: .GAMMA.-AMINOBUTYRIC ACID
  735. .GAMMA.-AMINOBUTYRIC ACID [Concomitant]
     Active Substance: .GAMMA.-AMINOBUTYRIC ACID
  736. .GAMMA.-AMINOBUTYRIC ACID [Concomitant]
     Active Substance: .GAMMA.-AMINOBUTYRIC ACID
  737. .GAMMA.-AMINOBUTYRIC ACID [Concomitant]
     Active Substance: .GAMMA.-AMINOBUTYRIC ACID
  738. .GAMMA.-AMINOBUTYRIC ACID [Concomitant]
     Active Substance: .GAMMA.-AMINOBUTYRIC ACID
  739. .GAMMA.-AMINOBUTYRIC ACID [Concomitant]
     Active Substance: .GAMMA.-AMINOBUTYRIC ACID
  740. .GAMMA.-AMINOBUTYRIC ACID [Concomitant]
     Active Substance: .GAMMA.-AMINOBUTYRIC ACID
  741. .GAMMA.-AMINOBUTYRIC ACID [Concomitant]
     Active Substance: .GAMMA.-AMINOBUTYRIC ACID
  742. .GAMMA.-AMINOBUTYRIC ACID [Concomitant]
     Active Substance: .GAMMA.-AMINOBUTYRIC ACID
  743. .GAMMA.-AMINOBUTYRIC ACID [Concomitant]
     Active Substance: .GAMMA.-AMINOBUTYRIC ACID
  744. .GAMMA.-AMINOBUTYRIC ACID [Concomitant]
     Active Substance: .GAMMA.-AMINOBUTYRIC ACID
  745. .GAMMA.-AMINOBUTYRIC ACID [Concomitant]
     Active Substance: .GAMMA.-AMINOBUTYRIC ACID
  746. .GAMMA.-AMINOBUTYRIC ACID [Concomitant]
     Active Substance: .GAMMA.-AMINOBUTYRIC ACID
  747. .GAMMA.-AMINOBUTYRIC ACID [Concomitant]
     Active Substance: .GAMMA.-AMINOBUTYRIC ACID
  748. .GAMMA.-AMINOBUTYRIC ACID [Concomitant]
     Active Substance: .GAMMA.-AMINOBUTYRIC ACID
  749. .GAMMA.-AMINOBUTYRIC ACID [Concomitant]
     Active Substance: .GAMMA.-AMINOBUTYRIC ACID
  750. .GAMMA.-AMINOBUTYRIC ACID [Concomitant]
     Active Substance: .GAMMA.-AMINOBUTYRIC ACID
  751. .GAMMA.-AMINOBUTYRIC ACID [Concomitant]
     Active Substance: .GAMMA.-AMINOBUTYRIC ACID
  752. .GAMMA.-AMINOBUTYRIC ACID [Concomitant]
     Active Substance: .GAMMA.-AMINOBUTYRIC ACID
  753. .GAMMA.-AMINOBUTYRIC ACID [Concomitant]
     Active Substance: .GAMMA.-AMINOBUTYRIC ACID
  754. .GAMMA.-AMINOBUTYRIC ACID [Concomitant]
     Active Substance: .GAMMA.-AMINOBUTYRIC ACID
  755. .GAMMA.-AMINOBUTYRIC ACID [Concomitant]
     Active Substance: .GAMMA.-AMINOBUTYRIC ACID
  756. .GAMMA.-AMINOBUTYRIC ACID [Concomitant]
     Active Substance: .GAMMA.-AMINOBUTYRIC ACID
  757. .GAMMA.-AMINOBUTYRIC ACID [Concomitant]
     Active Substance: .GAMMA.-AMINOBUTYRIC ACID
  758. .GAMMA.-AMINOBUTYRIC ACID [Concomitant]
     Active Substance: .GAMMA.-AMINOBUTYRIC ACID
  759. .GAMMA.-AMINOBUTYRIC ACID [Concomitant]
     Active Substance: .GAMMA.-AMINOBUTYRIC ACID
  760. MIRTAZAPINE [Concomitant]
     Active Substance: MIRTAZAPINE
     Indication: Product used for unknown indication
  761. MIRTAZAPINE [Concomitant]
     Active Substance: MIRTAZAPINE
  762. MIRTAZAPINE [Concomitant]
     Active Substance: MIRTAZAPINE
  763. MIRTAZAPINE [Concomitant]
     Active Substance: MIRTAZAPINE
  764. MIRTAZAPINE [Concomitant]
     Active Substance: MIRTAZAPINE
  765. MIRTAZAPINE [Concomitant]
     Active Substance: MIRTAZAPINE
  766. MIRTAZAPINE [Concomitant]
     Active Substance: MIRTAZAPINE
  767. MIRTAZAPINE [Concomitant]
     Active Substance: MIRTAZAPINE
  768. MIRTAZAPINE [Concomitant]
     Active Substance: MIRTAZAPINE
  769. MIRTAZAPINE [Concomitant]
     Active Substance: MIRTAZAPINE
  770. MIRTAZAPINE [Concomitant]
     Active Substance: MIRTAZAPINE
  771. MIRTAZAPINE [Concomitant]
     Active Substance: MIRTAZAPINE
  772. MIRTAZAPINE [Concomitant]
     Active Substance: MIRTAZAPINE
  773. MIRTAZAPINE [Concomitant]
     Active Substance: MIRTAZAPINE
  774. MIRTAZAPINE [Concomitant]
     Active Substance: MIRTAZAPINE
  775. MIRTAZAPINE [Concomitant]
     Active Substance: MIRTAZAPINE
  776. MIRTAZAPINE [Concomitant]
     Active Substance: MIRTAZAPINE
  777. MIRTAZAPINE [Concomitant]
     Active Substance: MIRTAZAPINE
  778. MIRTAZAPINE [Concomitant]
     Active Substance: MIRTAZAPINE
  779. MIRTAZAPINE [Concomitant]
     Active Substance: MIRTAZAPINE
  780. MIRTAZAPINE [Concomitant]
     Active Substance: MIRTAZAPINE
  781. MIRTAZAPINE [Concomitant]
     Active Substance: MIRTAZAPINE
  782. MIRTAZAPINE [Concomitant]
     Active Substance: MIRTAZAPINE
  783. MIRTAZAPINE [Concomitant]
     Active Substance: MIRTAZAPINE
  784. MIRTAZAPINE [Concomitant]
     Active Substance: MIRTAZAPINE
  785. MIRTAZAPINE [Concomitant]
     Active Substance: MIRTAZAPINE
  786. MIRTAZAPINE [Concomitant]
     Active Substance: MIRTAZAPINE
  787. MIRTAZAPINE [Concomitant]
     Active Substance: MIRTAZAPINE
  788. MIRTAZAPINE [Concomitant]
     Active Substance: MIRTAZAPINE
  789. MIRTAZAPINE [Concomitant]
     Active Substance: MIRTAZAPINE
  790. SLYND [Concomitant]
     Active Substance: DROSPIRENONE
     Indication: Product used for unknown indication
  791. SLYND [Concomitant]
     Active Substance: DROSPIRENONE
  792. SLYND [Concomitant]
     Active Substance: DROSPIRENONE
  793. SLYND [Concomitant]
     Active Substance: DROSPIRENONE
  794. SLYND [Concomitant]
     Active Substance: DROSPIRENONE
  795. SLYND [Concomitant]
     Active Substance: DROSPIRENONE
  796. SLYND [Concomitant]
     Active Substance: DROSPIRENONE
  797. SLYND [Concomitant]
     Active Substance: DROSPIRENONE
  798. SLYND [Concomitant]
     Active Substance: DROSPIRENONE
  799. SLYND [Concomitant]
     Active Substance: DROSPIRENONE
  800. SLYND [Concomitant]
     Active Substance: DROSPIRENONE
  801. SLYND [Concomitant]
     Active Substance: DROSPIRENONE
  802. SLYND [Concomitant]
     Active Substance: DROSPIRENONE
  803. SLYND [Concomitant]
     Active Substance: DROSPIRENONE
  804. SLYND [Concomitant]
     Active Substance: DROSPIRENONE
  805. SLYND [Concomitant]
     Active Substance: DROSPIRENONE
  806. SLYND [Concomitant]
     Active Substance: DROSPIRENONE
  807. SLYND [Concomitant]
     Active Substance: DROSPIRENONE
  808. SLYND [Concomitant]
     Active Substance: DROSPIRENONE
  809. SLYND [Concomitant]
     Active Substance: DROSPIRENONE
  810. SLYND [Concomitant]
     Active Substance: DROSPIRENONE
  811. SLYND [Concomitant]
     Active Substance: DROSPIRENONE
  812. SLYND [Concomitant]
     Active Substance: DROSPIRENONE
  813. SLYND [Concomitant]
     Active Substance: DROSPIRENONE
  814. SLYND [Concomitant]
     Active Substance: DROSPIRENONE
  815. SLYND [Concomitant]
     Active Substance: DROSPIRENONE
  816. SLYND [Concomitant]
     Active Substance: DROSPIRENONE
  817. SLYND [Concomitant]
     Active Substance: DROSPIRENONE
  818. SLYND [Concomitant]
     Active Substance: DROSPIRENONE
  819. SLYND [Concomitant]
     Active Substance: DROSPIRENONE

REACTIONS (4)
  - Seizure [Recovered/Resolved]
  - Hypersensitivity [Unknown]
  - Extra dose administered [Unknown]
  - Product administration interrupted [Unknown]

NARRATIVE: CASE EVENT DATE: 20200301
